FAERS Safety Report 11362536 (Version 10)
Quarter: 2025Q3

REPORT INFORMATION
  Report Type: Spontaneous
  Country: CA (occurrence: EU)
  Receive Date: 20150810
  Receipt Date: 20250725
  Transmission Date: 20251020
  Serious: Yes (Life-Threatening, Hospitalization, Other)
  Sender: NOVARTIS
  Company Number: PHHY2015CA096506

PATIENT
  Age: 77 Year
  Sex: Female

DRUGS (935)
  1. CARBAMAZEPINE [Suspect]
     Active Substance: CARBAMAZEPINE
     Indication: Seizure prophylaxis
     Dosage: 200 MG, BID SINCE 2008
     Route: 065
     Dates: start: 2008
  2. CARBAMAZEPINE [Suspect]
     Active Substance: CARBAMAZEPINE
     Indication: Seizure
     Dosage: 100 MG, BID
     Route: 065
  3. CARBAMAZEPINE [Suspect]
     Active Substance: CARBAMAZEPINE
     Indication: Fibromyalgia
     Route: 065
  4. CARBAMAZEPINE [Suspect]
     Active Substance: CARBAMAZEPINE
     Indication: Prophylaxis
     Route: 065
  5. CARBAMAZEPINE [Suspect]
     Active Substance: CARBAMAZEPINE
     Indication: Bladder disorder
     Route: 065
  6. CARBAMAZEPINE [Suspect]
     Active Substance: CARBAMAZEPINE
     Indication: Seizure prophylaxis
     Route: 065
  7. CARBAMAZEPINE [Suspect]
     Active Substance: CARBAMAZEPINE
     Indication: Pain
     Route: 065
  8. CARBAMAZEPINE [Suspect]
     Active Substance: CARBAMAZEPINE
     Route: 065
  9. CARBAMAZEPINE [Suspect]
     Active Substance: CARBAMAZEPINE
     Route: 065
  10. CARBAMAZEPINE [Suspect]
     Active Substance: CARBAMAZEPINE
     Route: 065
  11. CARBAMAZEPINE [Suspect]
     Active Substance: CARBAMAZEPINE
     Route: 065
  12. CARBAMAZEPINE [Suspect]
     Active Substance: CARBAMAZEPINE
     Route: 065
  13. CARBAMAZEPINE [Suspect]
     Active Substance: CARBAMAZEPINE
     Route: 065
  14. CARBAMAZEPINE [Suspect]
     Active Substance: CARBAMAZEPINE
     Route: 065
  15. CARBAMAZEPINE [Suspect]
     Active Substance: CARBAMAZEPINE
     Dosage: 400 MG, Q12H
     Route: 065
  16. CARBAMAZEPINE [Suspect]
     Active Substance: CARBAMAZEPINE
     Dosage: 400 MG, QD
     Route: 065
  17. CARBAMAZEPINE [Suspect]
     Active Substance: CARBAMAZEPINE
     Route: 065
  18. CARBAMAZEPINE [Suspect]
     Active Substance: CARBAMAZEPINE
     Dosage: 2 DOSAGE FORM, QD
     Route: 065
  19. CARBAMAZEPINE [Suspect]
     Active Substance: CARBAMAZEPINE
     Dosage: 2 DOSAGE FORM, Q12H
     Route: 065
  20. CARBAMAZEPINE [Suspect]
     Active Substance: CARBAMAZEPINE
     Dosage: 200 MG, QD
     Route: 065
  21. CARBAMAZEPINE [Suspect]
     Active Substance: CARBAMAZEPINE
     Route: 065
  22. CARBAMAZEPINE [Suspect]
     Active Substance: CARBAMAZEPINE
     Dosage: 200 MG, Q12H
     Route: 065
  23. CARBAMAZEPINE [Suspect]
     Active Substance: CARBAMAZEPINE
     Route: 065
  24. CARBAMAZEPINE [Suspect]
     Active Substance: CARBAMAZEPINE
     Dosage: UNK, Q12H
     Route: 065
  25. CARBAMAZEPINE [Suspect]
     Active Substance: CARBAMAZEPINE
     Route: 065
  26. CARBAMAZEPINE [Suspect]
     Active Substance: CARBAMAZEPINE
     Route: 065
  27. CARBAMAZEPINE [Suspect]
     Active Substance: CARBAMAZEPINE
     Route: 065
  28. CARBAMAZEPINE [Suspect]
     Active Substance: CARBAMAZEPINE
     Route: 065
  29. CARBAMAZEPINE [Suspect]
     Active Substance: CARBAMAZEPINE
     Dosage: 1 DOSAGE FORM, QD
     Route: 065
  30. CARBAMAZEPINE [Suspect]
     Active Substance: CARBAMAZEPINE
     Route: 065
  31. CARBAMAZEPINE [Suspect]
     Active Substance: CARBAMAZEPINE
     Dosage: 1 DOSAGE FORM, Q12H
     Route: 065
  32. CARBAMAZEPINE [Suspect]
     Active Substance: CARBAMAZEPINE
     Dosage: 100 MG, QD
     Route: 065
  33. CARBAMAZEPINE [Suspect]
     Active Substance: CARBAMAZEPINE
     Dosage: 500 MG, Q12H
     Route: 065
  34. CARBAMAZEPINE [Suspect]
     Active Substance: CARBAMAZEPINE
     Dosage: 800 MG, Q12H
     Route: 065
  35. CARBAMAZEPINE [Suspect]
     Active Substance: CARBAMAZEPINE
     Dosage: 500 MG, QD
     Route: 065
  36. CARBAMAZEPINE [Suspect]
     Active Substance: CARBAMAZEPINE
     Route: 065
  37. ACETAMINOPHEN [Suspect]
     Active Substance: ACETAMINOPHEN
     Indication: Product used for unknown indication
     Dosage: 5 MG, Q8H
     Route: 065
  38. ACETAMINOPHEN [Suspect]
     Active Substance: ACETAMINOPHEN
     Route: 065
  39. ACETAMINOPHEN [Suspect]
     Active Substance: ACETAMINOPHEN
     Route: 065
  40. ACETAMINOPHEN [Suspect]
     Active Substance: ACETAMINOPHEN
     Dosage: 5 MG, QD
     Route: 065
  41. ACETAMINOPHEN [Suspect]
     Active Substance: ACETAMINOPHEN
     Dosage: 2 MG, QD
     Route: 065
  42. ACETAMINOPHEN [Suspect]
     Active Substance: ACETAMINOPHEN
     Dosage: 10 MG QD (5 MG, BID(10 MG QD)
     Route: 065
  43. ACETAMINOPHEN [Suspect]
     Active Substance: ACETAMINOPHEN
     Route: 065
  44. ACETAMINOPHEN [Suspect]
     Active Substance: ACETAMINOPHEN
     Route: 065
  45. ACETAMINOPHEN [Suspect]
     Active Substance: ACETAMINOPHEN
     Route: 065
  46. ACETAMINOPHEN [Suspect]
     Active Substance: ACETAMINOPHEN
     Dosage: 5 MG, Q12H
     Route: 065
  47. ACETAMINOPHEN [Suspect]
     Active Substance: ACETAMINOPHEN
     Route: 065
  48. ACETAMINOPHEN [Suspect]
     Active Substance: ACETAMINOPHEN
     Dosage: 7.48 MG (1.87 MG, QID)
     Route: 065
  49. ACETAMINOPHEN [Suspect]
     Active Substance: ACETAMINOPHEN
     Dosage: 5 UG QD (5 UG, Q12H)
     Route: 065
  50. ACETAMINOPHEN [Suspect]
     Active Substance: ACETAMINOPHEN
     Dosage: 360 UG, QD
     Route: 065
  51. ACETAMINOPHEN [Suspect]
     Active Substance: ACETAMINOPHEN
     Route: 065
  52. ACETAMINOPHEN [Suspect]
     Active Substance: ACETAMINOPHEN
     Dosage: 1 MG, QD
     Route: 065
  53. ACETAMINOPHEN [Suspect]
     Active Substance: ACETAMINOPHEN
     Route: 065
  54. ACETAMINOPHEN [Suspect]
     Active Substance: ACETAMINOPHEN
     Route: 065
  55. ACETAMINOPHEN [Suspect]
     Active Substance: ACETAMINOPHEN
     Dosage: 100 UG, Q12H
     Route: 065
  56. ACETAMINOPHEN [Suspect]
     Active Substance: ACETAMINOPHEN
     Dosage: 5 MG, Q8H
     Route: 065
  57. ACETAMINOPHEN [Suspect]
     Active Substance: ACETAMINOPHEN
     Dosage: 15 UG, Q8H
     Route: 065
  58. ACETAMINOPHEN [Suspect]
     Active Substance: ACETAMINOPHEN
     Dosage: 15 MG QD(5 MG, TID(15 MG QD)
     Route: 065
  59. ACETAMINOPHEN [Suspect]
     Active Substance: ACETAMINOPHEN
     Dosage: 200 UG, Q12H
     Route: 065
  60. ACETAMINOPHEN [Suspect]
     Active Substance: ACETAMINOPHEN
     Dosage: 200 MG, QD
     Route: 065
  61. OXCARBAZEPINE [Suspect]
     Active Substance: OXCARBAZEPINE
     Indication: Product used for unknown indication
     Dosage: 4 MG, QD DAILY
     Route: 065
  62. OXCARBAZEPINE [Suspect]
     Active Substance: OXCARBAZEPINE
     Dosage: 10 MG, QD DAILY
     Route: 065
  63. OXCARBAZEPINE [Suspect]
     Active Substance: OXCARBAZEPINE
     Route: 065
  64. OXCARBAZEPINE [Suspect]
     Active Substance: OXCARBAZEPINE
     Dosage: 20 MG, QD DAILY
     Route: 065
  65. OXCARBAZEPINE [Suspect]
     Active Substance: OXCARBAZEPINE
     Dosage: 40 MG, QD DAILY
     Route: 061
  66. OXCARBAZEPINE [Suspect]
     Active Substance: OXCARBAZEPINE
     Dosage: 40 MG, QD DAILY
     Route: 061
  67. OXCARBAZEPINE [Suspect]
     Active Substance: OXCARBAZEPINE
     Dosage: 40 MG QD, 1 EVERY 1DAY
     Route: 061
  68. OXCARBAZEPINE [Suspect]
     Active Substance: OXCARBAZEPINE
     Dosage: 4 MG, QD DAILY
     Route: 065
  69. OXCARBAZEPINE [Suspect]
     Active Substance: OXCARBAZEPINE
     Route: 065
  70. AMLODIPINE [Suspect]
     Active Substance: AMLODIPINE BESYLATE
     Indication: Coronary artery disease
     Dosage: 18 MG, QD DAILY
     Route: 065
  71. AMLODIPINE [Suspect]
     Active Substance: AMLODIPINE BESYLATE
     Indication: Hypertension
     Dosage: 16 MG, QD DAILY
     Route: 065
  72. AMLODIPINE [Suspect]
     Active Substance: AMLODIPINE BESYLATE
     Indication: Chest pain
     Route: 065
  73. AMLODIPINE [Suspect]
     Active Substance: AMLODIPINE BESYLATE
     Indication: Angina pectoris
     Route: 065
  74. AMLODIPINE [Suspect]
     Active Substance: AMLODIPINE BESYLATE
     Dosage: 5 MG, Q12H
     Route: 065
  75. AMLODIPINE [Suspect]
     Active Substance: AMLODIPINE BESYLATE
     Dosage: 360 MG, QD DAILY
     Route: 065
  76. AMLODIPINE [Suspect]
     Active Substance: AMLODIPINE BESYLATE
     Route: 065
  77. AMLODIPINE [Suspect]
     Active Substance: AMLODIPINE BESYLATE
     Dosage: UNK, QD DAILY
     Route: 065
  78. AMLODIPINE [Suspect]
     Active Substance: AMLODIPINE BESYLATE
     Dosage: 1 MG QD (0.5 MG, BID)
     Route: 065
  79. AMLODIPINE [Suspect]
     Active Substance: AMLODIPINE BESYLATE
     Dosage: 2 DOSAGE FORM, Q12H
     Route: 048
  80. AMLODIPINE [Suspect]
     Active Substance: AMLODIPINE BESYLATE
     Route: 065
  81. AMLODIPINE [Suspect]
     Active Substance: AMLODIPINE BESYLATE
     Dosage: 1 DOSAGE FORM, Q12H
     Route: 065
  82. AMLODIPINE [Suspect]
     Active Substance: AMLODIPINE BESYLATE
     Dosage: 400 MG QD (200 MG, BID)
     Route: 065
  83. AMLODIPINE [Suspect]
     Active Substance: AMLODIPINE BESYLATE
     Dosage: 2 DOSAGE FORM, QD DAILY
     Route: 065
  84. AMLODIPINE [Suspect]
     Active Substance: AMLODIPINE BESYLATE
     Route: 065
  85. AMLODIPINE [Suspect]
     Active Substance: AMLODIPINE BESYLATE
     Route: 048
  86. AMLODIPINE [Suspect]
     Active Substance: AMLODIPINE BESYLATE
     Route: 065
  87. AMLODIPINE [Suspect]
     Active Substance: AMLODIPINE BESYLATE
     Route: 065
  88. AMLODIPINE [Suspect]
     Active Substance: AMLODIPINE BESYLATE
     Dosage: 2 DOSAGE FORM, QD
     Route: 065
  89. AMLODIPINE [Suspect]
     Active Substance: AMLODIPINE BESYLATE
     Dosage: 2 DOSAGE FORM, QD DAILY (1 DF, BID )
     Route: 065
  90. AMLODIPINE [Suspect]
     Active Substance: AMLODIPINE BESYLATE
     Route: 065
  91. AMLODIPINE [Suspect]
     Active Substance: AMLODIPINE BESYLATE
     Route: 065
  92. AMLODIPINE [Suspect]
     Active Substance: AMLODIPINE BESYLATE
     Dosage: 1 DOSAGE FORM, QD
     Route: 065
  93. AMLODIPINE BESYLATE [Suspect]
     Active Substance: AMLODIPINE BESYLATE
     Indication: Hypertension
     Route: 065
  94. AMLODIPINE BESYLATE [Suspect]
     Active Substance: AMLODIPINE BESYLATE
     Indication: Coronary artery disease
     Dosage: 50 MG, QD (DAILY)
     Route: 065
  95. AMLODIPINE BESYLATE [Suspect]
     Active Substance: AMLODIPINE BESYLATE
     Indication: Angina pectoris
     Dosage: 5 MG, QD (DAILY)
     Route: 065
  96. AMLODIPINE BESYLATE [Suspect]
     Active Substance: AMLODIPINE BESYLATE
     Indication: Constipation
     Dosage: 5 MG, QD (DAILY)
     Route: 065
  97. AMLODIPINE BESYLATE [Suspect]
     Active Substance: AMLODIPINE BESYLATE
     Indication: Chest pain
     Dosage: 5 MG, QD (DAILY)
     Route: 065
  98. AMLODIPINE BESYLATE [Suspect]
     Active Substance: AMLODIPINE BESYLATE
     Indication: Chronic obstructive pulmonary disease
     Dosage: 5 MG, QD (DAILY)
     Route: 065
  99. AMLODIPINE BESYLATE [Suspect]
     Active Substance: AMLODIPINE BESYLATE
     Dosage: 5 MG, QD (DAILY)
     Route: 065
  100. AMLODIPINE BESYLATE [Suspect]
     Active Substance: AMLODIPINE BESYLATE
     Route: 065
  101. AMLODIPINE BESYLATE [Suspect]
     Active Substance: AMLODIPINE BESYLATE
     Route: 065
  102. AMLODIPINE BESYLATE [Suspect]
     Active Substance: AMLODIPINE BESYLATE
     Route: 065
  103. AMLODIPINE BESYLATE [Suspect]
     Active Substance: AMLODIPINE BESYLATE
     Route: 065
  104. ROSUVASTATIN [Suspect]
     Active Substance: ROSUVASTATIN
     Indication: Product used for unknown indication
     Route: 065
  105. ROSUVASTATIN [Suspect]
     Active Substance: ROSUVASTATIN
     Dosage: 2 DOSAGE FORM, QD (1 DF, BID  )
     Route: 065
  106. ROSUVASTATIN [Suspect]
     Active Substance: ROSUVASTATIN
     Route: 065
  107. OMEPRAZOLE [Suspect]
     Active Substance: OMEPRAZOLE
     Indication: Product used for unknown indication
     Dosage: 20 MG, QD
     Route: 048
  108. OMEPRAZOLE [Suspect]
     Active Substance: OMEPRAZOLE
     Route: 065
  109. OMEPRAZOLE [Suspect]
     Active Substance: OMEPRAZOLE
     Route: 065
  110. OMEPRAZOLE [Suspect]
     Active Substance: OMEPRAZOLE
     Route: 065
  111. OMEPRAZOLE [Suspect]
     Active Substance: OMEPRAZOLE
     Dosage: 20 MG, QD
     Route: 065
  112. OMEPRAZOLE [Suspect]
     Active Substance: OMEPRAZOLE
     Route: 065
  113. OMEPRAZOLE [Suspect]
     Active Substance: OMEPRAZOLE
     Route: 065
  114. FUROSEMIDE [Suspect]
     Active Substance: FUROSEMIDE
     Indication: Oedema
     Dosage: 40 MG, DAILY
     Route: 061
  115. FUROSEMIDE [Suspect]
     Active Substance: FUROSEMIDE
     Dosage: 20 MG, QD (IN THE MORNING)
     Route: 065
  116. FUROSEMIDE [Suspect]
     Active Substance: FUROSEMIDE
     Dosage: 10 MG, QD
     Route: 065
  117. FUROSEMIDE [Suspect]
     Active Substance: FUROSEMIDE
     Dosage: 500 MG, QH Q1H (PROLONGED-RELEASE CAPSULE, HARD)
     Route: 065
  118. FUROSEMIDE [Suspect]
     Active Substance: FUROSEMIDE
     Dosage: 500 MG, QD (PROLONGED-RELEASE CAPSULE, HARD)
     Route: 065
  119. FUROSEMIDE [Suspect]
     Active Substance: FUROSEMIDE
     Dosage: 500 MG, QH Q1H (PROLONGED-RELEASE CAPSULE, HARD)
     Route: 065
  120. FUROSEMIDE [Suspect]
     Active Substance: FUROSEMIDE
     Dosage: 1000 MG, QD (PROLONGED-RELEASE CAPSULE, HARD)
     Route: 065
  121. FUROSEMIDE [Suspect]
     Active Substance: FUROSEMIDE
     Dosage: 2500 MG, QD (PROLONGED-RELEASE CAPSULE, HARD)
     Route: 065
  122. FUROSEMIDE [Suspect]
     Active Substance: FUROSEMIDE
     Route: 065
  123. FUROSEMIDE [Suspect]
     Active Substance: FUROSEMIDE
     Dosage: 2500 MG, QD (500 MILLIGRAM 1 EVERY 5 DAYS (PROLONGED-RELEASE CAPSULE, HARD))
     Route: 065
  124. FUROSEMIDE [Suspect]
     Active Substance: FUROSEMIDE
     Dosage: 1000 MG, QD (500 MG, BID) (PROLONGED-RELEASE CAPSULE, HARD)
     Route: 065
  125. FUROSEMIDE [Suspect]
     Active Substance: FUROSEMIDE
     Dosage: 500 MG, QD (250 MG, BID,PROLONGED-RELEASE CAPSULE, HAR)
     Route: 065
  126. FUROSEMIDE [Suspect]
     Active Substance: FUROSEMIDE
     Dosage: 250 MG, QD,PROLONGED-RELEASE CAPSULE, HARD
     Route: 065
  127. FUROSEMIDE [Suspect]
     Active Substance: FUROSEMIDE
     Dosage: 2500 MG, QD (500 MG, 5/DAY,PROLONGED-RELEASE CAPSULE, HAR)
     Route: 065
  128. FUROSEMIDE [Suspect]
     Active Substance: FUROSEMIDE
     Dosage: 500 MG, Q12H, PROLONGED-RELEASE CAPSULE, HAR
     Route: 065
  129. FUROSEMIDE [Suspect]
     Active Substance: FUROSEMIDE
     Dosage: 1000 MG, QD (250 MG, 2 EVERY 2 DAYS, (PROLONGED-RELEASE CAPSULE, HARD))
     Route: 065
  130. FUROSEMIDE [Suspect]
     Active Substance: FUROSEMIDE
     Route: 065
  131. FUROSEMIDE [Suspect]
     Active Substance: FUROSEMIDE
     Route: 065
  132. LEVOFLOXACIN [Suspect]
     Active Substance: LEVOFLOXACIN
     Indication: Thyroid disorder
     Route: 065
  133. LEVOFLOXACIN [Suspect]
     Active Substance: LEVOFLOXACIN
     Indication: Urinary tract infection
     Route: 065
  134. LEVOFLOXACIN [Suspect]
     Active Substance: LEVOFLOXACIN
     Indication: Radioactive iodine therapy
     Dosage: 500 MG, QD (250 MG, Q12H)
     Route: 065
  135. LEVOFLOXACIN [Suspect]
     Active Substance: LEVOFLOXACIN
     Dosage: 250 MG, QD (DAILY)
     Route: 065
  136. LEVOFLOXACIN [Suspect]
     Active Substance: LEVOFLOXACIN
     Dosage: 200 MG, QD (DAILY)
     Route: 065
  137. LEVOFLOXACIN [Suspect]
     Active Substance: LEVOFLOXACIN
     Route: 065
  138. ALBUTEROL [Suspect]
     Active Substance: ALBUTEROL
     Indication: Chest pain
     Dosage: 400 UG, Q6H (TABLET 400 MICROGRAM,1 EVERY 6HOURS)
     Route: 065
  139. ALBUTEROL [Suspect]
     Active Substance: ALBUTEROL
     Indication: Coronary artery disease
     Dosage: UNK, QID
     Route: 065
  140. ALBUTEROL [Suspect]
     Active Substance: ALBUTEROL
     Indication: Angina pectoris
     Route: 065
  141. ALBUTEROL [Suspect]
     Active Substance: ALBUTEROL
     Indication: Hypertension
     Route: 065
  142. ALBUTEROL [Suspect]
     Active Substance: ALBUTEROL
     Indication: Chronic obstructive pulmonary disease
     Dosage: 400 UG, QD (200 MCG, BID)
     Route: 055
  143. ALBUTEROL [Suspect]
     Active Substance: ALBUTEROL
     Dosage: 400 MG, Q6H
     Route: 065
  144. ALBUTEROL [Suspect]
     Active Substance: ALBUTEROL
     Dosage: 800 MG, QD (DAILY)
     Route: 065
  145. ALBUTEROL [Suspect]
     Active Substance: ALBUTEROL
     Dosage: 100 MG, Q6H (100 MG (1 EVERY 6HOURS))
     Route: 065
  146. ALBUTEROL [Suspect]
     Active Substance: ALBUTEROL
     Route: 065
  147. ALBUTEROL [Suspect]
     Active Substance: ALBUTEROL
     Dosage: 200 MG, Q8H
     Route: 065
  148. ALBUTEROL [Suspect]
     Active Substance: ALBUTEROL
     Dosage: 100 MG, QD (DAILY)
     Route: 065
  149. ALBUTEROL [Suspect]
     Active Substance: ALBUTEROL
     Dosage: 100 UG, QD (100 MCG, DAILY (100 MCG PER INHALATION DAILY))
     Route: 055
  150. ALBUTEROL [Suspect]
     Active Substance: ALBUTEROL
     Route: 065
  151. ALBUTEROL [Suspect]
     Active Substance: ALBUTEROL
     Dosage: 400 MG, QD (DAILY)
     Route: 065
  152. ALBUTEROL [Suspect]
     Active Substance: ALBUTEROL
     Dosage: 200 UG, Q6H (200 MCG, Q6H  )
     Route: 065
  153. AMLODIPINE [Suspect]
     Active Substance: AMLODIPINE BESYLATE
     Indication: Angina pectoris
     Dosage: 5 MG, QD (5 MG, DAILY)
     Route: 065
  154. AMLODIPINE [Suspect]
     Active Substance: AMLODIPINE BESYLATE
     Indication: Chest pain
     Dosage: 5 MG, QD (5 MG, DAILY)
     Route: 065
  155. AMLODIPINE [Suspect]
     Active Substance: AMLODIPINE BESYLATE
     Indication: Hypertension
     Dosage: 5 MG, QD (5 MG, DAILY)
     Route: 065
  156. AMLODIPINE [Suspect]
     Active Substance: AMLODIPINE BESYLATE
     Indication: Coronary artery disease
     Dosage: 5 MG, QD (5 MG, DAILY)
     Route: 065
  157. AMLODIPINE [Suspect]
     Active Substance: AMLODIPINE BESYLATE
     Dosage: 5 MG, QD (5 MG, DAILY)
     Route: 065
  158. AMLODIPINE [Suspect]
     Active Substance: AMLODIPINE BESYLATE
     Dosage: 5 MG, QD (5 MG, DAILY)
     Route: 065
  159. AMLODIPINE [Suspect]
     Active Substance: AMLODIPINE BESYLATE
     Dosage: 5 MG, QD (5 MG, DAILY)
     Route: 065
  160. AMLODIPINE [Suspect]
     Active Substance: AMLODIPINE BESYLATE
     Dosage: 5 MG, QD (5 MG, DAILY)
     Route: 065
  161. AMLODIPINE [Suspect]
     Active Substance: AMLODIPINE BESYLATE
     Route: 065
  162. AMLODIPINE [Suspect]
     Active Substance: AMLODIPINE BESYLATE
     Dosage: 5 MG, QD (5 MG, DAILY)
     Route: 065
  163. AMLODIPINE [Suspect]
     Active Substance: AMLODIPINE BESYLATE
     Dosage: 5 MG, QD (5 MG, DAILY)
     Route: 065
  164. AMLODIPINE [Suspect]
     Active Substance: AMLODIPINE BESYLATE
     Dosage: 5 MG, QD (5 MG, DAILY)
     Route: 065
  165. AMLODIPINE [Suspect]
     Active Substance: AMLODIPINE BESYLATE
     Dosage: 5 MG, QD (5 MG, DAILY)
     Route: 065
  166. AMLODIPINE [Suspect]
     Active Substance: AMLODIPINE BESYLATE
     Dosage: 5 MG, QD (5 MG, DAILY)
     Route: 065
  167. AMLODIPINE [Suspect]
     Active Substance: AMLODIPINE BESYLATE
     Dosage: 5 MG, QD (5 MG, DAILY)
     Route: 065
  168. AMLODIPINE [Suspect]
     Active Substance: AMLODIPINE BESYLATE
     Dosage: 5 MG, QD (5 MG, DAILY)
     Route: 065
  169. AMLODIPINE [Suspect]
     Active Substance: AMLODIPINE BESYLATE
     Dosage: 5 MG, QD (5 MG, DAILY)
     Route: 065
  170. AMLODIPINE [Suspect]
     Active Substance: AMLODIPINE BESYLATE
     Dosage: 5 MG, QD (5 MG, DAILY)
     Route: 065
  171. AMLODIPINE [Suspect]
     Active Substance: AMLODIPINE BESYLATE
     Dosage: 5 MG, QD (5 MG, DAILY)
     Route: 065
  172. AMLODIPINE [Suspect]
     Active Substance: AMLODIPINE BESYLATE
     Dosage: 5 MG, QD (5 MG, DAILY)
     Route: 065
  173. AMLODIPINE [Suspect]
     Active Substance: AMLODIPINE BESYLATE
     Dosage: 5 MG, QD (5 MG, DAILY)
     Route: 065
  174. AMLODIPINE [Suspect]
     Active Substance: AMLODIPINE BESYLATE
     Route: 065
  175. AMLODIPINE [Suspect]
     Active Substance: AMLODIPINE BESYLATE
     Route: 065
  176. AMLODIPINE [Suspect]
     Active Substance: AMLODIPINE BESYLATE
     Route: 065
  177. AMLODIPINE [Suspect]
     Active Substance: AMLODIPINE BESYLATE
     Dosage: 5 MG, QD (5 MG, DAILY)
     Route: 065
  178. AMLODIPINE [Suspect]
     Active Substance: AMLODIPINE BESYLATE
     Dosage: 5 MG, QD (5 MG, DAILY)
     Route: 065
  179. AMLODIPINE [Suspect]
     Active Substance: AMLODIPINE BESYLATE
     Dosage: 5 MG, QD (5 MG, DAILY)
     Route: 065
  180. AMLODIPINE [Suspect]
     Active Substance: AMLODIPINE BESYLATE
     Dosage: 5 MG, QD (5 MG, DAILY)
     Route: 065
  181. AMLODIPINE [Suspect]
     Active Substance: AMLODIPINE BESYLATE
     Dosage: 5 MG, QD (5 MG, DAILY)
     Route: 065
  182. AMLODIPINE [Suspect]
     Active Substance: AMLODIPINE BESYLATE
     Dosage: 5 MG, QD (5 MG, DAILY)
     Route: 065
  183. AMLODIPINE [Suspect]
     Active Substance: AMLODIPINE BESYLATE
     Route: 065
  184. AMLODIPINE [Suspect]
     Active Substance: AMLODIPINE BESYLATE
     Route: 065
  185. AMLODIPINE [Suspect]
     Active Substance: AMLODIPINE BESYLATE
     Route: 065
  186. AMLODIPINE [Suspect]
     Active Substance: AMLODIPINE BESYLATE
     Dosage: 5 MG, QD (5 MG, DAILY)
     Route: 065
  187. MORPHINE SULFATE [Interacting]
     Active Substance: MORPHINE SULFATE
     Indication: Product used for unknown indication
     Route: 048
  188. MORPHINE SULFATE [Interacting]
     Active Substance: MORPHINE SULFATE
     Dosage: 0.09 MG, QD (0.088 MG)
     Route: 065
  189. MORPHINE SULFATE [Interacting]
     Active Substance: MORPHINE SULFATE
     Dosage: 0.08 MG, QD
     Route: 065
  190. MORPHINE SULFATE [Interacting]
     Active Substance: MORPHINE SULFATE
     Dosage: 0.09 MG, QD (0.09 MG DAILY)
     Route: 048
  191. MORPHINE SULFATE [Interacting]
     Active Substance: MORPHINE SULFATE
     Dosage: 1244 MG, QD (622 MG,1 EVERY 12 HOURS)
     Route: 065
  192. MORPHINE SULFATE [Interacting]
     Active Substance: MORPHINE SULFATE
     Dosage: 0.8 MG, QD (DAILY)
     Route: 065
  193. MORPHINE SULFATE [Interacting]
     Active Substance: MORPHINE SULFATE
     Dosage: 0.09 MG, QD (0.088 MG)
     Route: 065
  194. MORPHINE SULFATE [Interacting]
     Active Substance: MORPHINE SULFATE
     Dosage: 88 MG, QD (DAILY)
     Route: 065
  195. MORPHINE SULFATE [Interacting]
     Active Substance: MORPHINE SULFATE
     Route: 065
  196. MORPHINE SULFATE [Interacting]
     Active Substance: MORPHINE SULFATE
     Dosage: 0.9 MG, QD (DAILY)
     Route: 048
  197. MORPHINE SULFATE [Interacting]
     Active Substance: MORPHINE SULFATE
     Dosage: 10 MG, QD
     Route: 065
  198. MORPHINE SULFATE [Interacting]
     Active Substance: MORPHINE SULFATE
     Dosage: 100 MG, QD
     Route: 065
  199. MORPHINE SULFATE [Interacting]
     Active Substance: MORPHINE SULFATE
     Route: 048
  200. AMITRIPTYLINE HYDROCHLORIDE\PERPHENAZINE [Suspect]
     Active Substance: AMITRIPTYLINE HYDROCHLORIDE\PERPHENAZINE
     Indication: Insomnia
     Route: 048
  201. AMITRIPTYLINE HYDROCHLORIDE\PERPHENAZINE [Suspect]
     Active Substance: AMITRIPTYLINE HYDROCHLORIDE\PERPHENAZINE
     Route: 048
  202. AMITRIPTYLINE HYDROCHLORIDE\PERPHENAZINE [Suspect]
     Active Substance: AMITRIPTYLINE HYDROCHLORIDE\PERPHENAZINE
     Dosage: 25 MG, QD (AT BEDTIME)
     Route: 048
  203. AMITRIPTYLINE HYDROCHLORIDE\PERPHENAZINE [Suspect]
     Active Substance: AMITRIPTYLINE HYDROCHLORIDE\PERPHENAZINE
     Route: 065
  204. AMITRIPTYLINE [Suspect]
     Active Substance: AMITRIPTYLINE
     Indication: Cerebrovascular accident
     Dosage: 5 MG, QD DAILY
     Route: 065
  205. AMITRIPTYLINE [Suspect]
     Active Substance: AMITRIPTYLINE
     Indication: Insomnia
     Dosage: 50 MG, QD DAILY
     Route: 065
  206. AMITRIPTYLINE [Suspect]
     Active Substance: AMITRIPTYLINE
     Indication: Angina pectoris
     Dosage: 650 MG, QD DAILY
     Route: 065
  207. AMITRIPTYLINE [Suspect]
     Active Substance: AMITRIPTYLINE
     Indication: Pain
     Route: 065
  208. AMITRIPTYLINE [Suspect]
     Active Substance: AMITRIPTYLINE
     Indication: Thyroid disorder
     Dosage: 6 MG, QD DAILY
     Route: 061
  209. AMITRIPTYLINE [Suspect]
     Active Substance: AMITRIPTYLINE
     Indication: Radioactive iodine therapy
     Dosage: UNK, QD (50 GALLONS, DAILY)
     Route: 065
  210. AMITRIPTYLINE [Suspect]
     Active Substance: AMITRIPTYLINE
     Indication: Prophylaxis
     Dosage: 60 MG, QD DAILY
     Route: 065
  211. AMITRIPTYLINE [Suspect]
     Active Substance: AMITRIPTYLINE
     Indication: Oedema
     Dosage: 75 MG, QD
     Route: 065
  212. AMITRIPTYLINE [Suspect]
     Active Substance: AMITRIPTYLINE
     Indication: Fibromyalgia
     Route: 065
  213. AMITRIPTYLINE [Suspect]
     Active Substance: AMITRIPTYLINE
     Indication: Constipation
     Dosage: 75 MILLIGRAM QD 1EVERY 1 DAY
     Route: 065
  214. AMITRIPTYLINE [Suspect]
     Active Substance: AMITRIPTYLINE
     Indication: Dementia
     Dosage: 25 MG, QD DAILY
     Route: 065
  215. AMITRIPTYLINE [Suspect]
     Active Substance: AMITRIPTYLINE
     Indication: Duodenal ulcer
     Dosage: 20 MG, QD DAILY
     Route: 048
  216. AMITRIPTYLINE [Suspect]
     Active Substance: AMITRIPTYLINE
     Indication: Chest pain
     Dosage: 20 MG, Q12H
     Route: 048
  217. AMITRIPTYLINE [Suspect]
     Active Substance: AMITRIPTYLINE
     Indication: Hypertension
     Dosage: 20 MG, QD DAILY
     Route: 048
  218. AMITRIPTYLINE [Suspect]
     Active Substance: AMITRIPTYLINE
     Indication: Coronary artery disease
  219. AMITRIPTYLINE [Suspect]
     Active Substance: AMITRIPTYLINE
     Indication: Arthritis
  220. AMITRIPTYLINE [Suspect]
     Active Substance: AMITRIPTYLINE
     Indication: Product used for unknown indication
  221. CYCLOBENZAPRINE [Suspect]
     Active Substance: CYCLOBENZAPRINE
     Indication: Fibromyalgia
     Dosage: 5 MG, TID
     Route: 065
  222. CYCLOBENZAPRINE [Suspect]
     Active Substance: CYCLOBENZAPRINE
     Dosage: 5 MG, BID (MORNING AND BEDTIME)
     Route: 065
  223. CYCLOBENZAPRINE [Suspect]
     Active Substance: CYCLOBENZAPRINE
     Dosage: 5 MG, QD (BEDTIME)
     Route: 065
  224. CYCLOBENZAPRINE [Suspect]
     Active Substance: CYCLOBENZAPRINE
     Dosage: 40 MG QD, DAILY
     Route: 065
  225. CYCLOBENZAPRINE [Suspect]
     Active Substance: CYCLOBENZAPRINE
     Dosage: 40 MG QD, DAILY
     Route: 065
  226. CYCLOBENZAPRINE [Suspect]
     Active Substance: CYCLOBENZAPRINE
     Dosage: 40 MG QD, DAILY
     Route: 065
  227. CYCLOBENZAPRINE [Suspect]
     Active Substance: CYCLOBENZAPRINE
     Dosage: 20 MG QD, DAILY
     Route: 065
  228. CYCLOBENZAPRINE [Suspect]
     Active Substance: CYCLOBENZAPRINE
     Dosage: 40 MG, QD
     Route: 065
  229. CYCLOBENZAPRINE [Suspect]
     Active Substance: CYCLOBENZAPRINE
     Dosage: 20 MG QD, DAILY
     Route: 065
  230. CYCLOBENZAPRINE [Suspect]
     Active Substance: CYCLOBENZAPRINE
     Dosage: 20 MG, Q12H
     Route: 065
  231. CYCLOBENZAPRINE [Suspect]
     Active Substance: CYCLOBENZAPRINE
     Dosage: 20 MG QD DAILY
     Route: 065
  232. CYCLOBENZAPRINE [Suspect]
     Active Substance: CYCLOBENZAPRINE
     Dosage: 400 MG QD DAILY
     Route: 065
  233. CYCLOBENZAPRINE [Suspect]
     Active Substance: CYCLOBENZAPRINE
     Dosage: 40 MG QD DAILY
     Route: 048
  234. CYCLOBENZAPRINE [Suspect]
     Active Substance: CYCLOBENZAPRINE
     Route: 065
  235. CYCLOBENZAPRINE [Suspect]
     Active Substance: CYCLOBENZAPRINE
     Dosage: 800 MG QD DAILY
     Route: 065
  236. CYCLOBENZAPRINE [Suspect]
     Active Substance: CYCLOBENZAPRINE
     Route: 065
  237. CYCLOBENZAPRINE [Suspect]
     Active Substance: CYCLOBENZAPRINE
     Route: 065
  238. CYCLOBENZAPRINE [Suspect]
     Active Substance: CYCLOBENZAPRINE
     Dosage: 750 MG, QD DAILY
     Route: 065
  239. CYCLOBENZAPRINE [Suspect]
     Active Substance: CYCLOBENZAPRINE
     Dosage: 500 MG, QD DAILY
     Route: 065
  240. CYCLOBENZAPRINE [Suspect]
     Active Substance: CYCLOBENZAPRINE
     Dosage: 50 MG, QD DAILY
     Route: 065
  241. CYCLOBENZAPRINE [Suspect]
     Active Substance: CYCLOBENZAPRINE
     Dosage: 75 MG, QD DAILY
     Route: 065
  242. CYCLOBENZAPRINE [Suspect]
     Active Substance: CYCLOBENZAPRINE
     Route: 065
  243. CYCLOBENZAPRINE [Suspect]
     Active Substance: CYCLOBENZAPRINE
     Route: 065
  244. CYCLOBENZAPRINE [Suspect]
     Active Substance: CYCLOBENZAPRINE
     Route: 065
  245. OXAZEPAM [Suspect]
     Active Substance: OXAZEPAM
     Indication: Insomnia
     Dosage: 15 MG, QD AT BED TIME
     Route: 048
  246. OXAZEPAM [Suspect]
     Active Substance: OXAZEPAM
     Dosage: 75 MG QD DAILY
     Route: 065
  247. OXAZEPAM [Suspect]
     Active Substance: OXAZEPAM
     Dosage: 50 MG QD DAILY
     Route: 065
  248. OXAZEPAM [Suspect]
     Active Substance: OXAZEPAM
     Route: 065
  249. MORPHINE SULFATE [Suspect]
     Active Substance: MORPHINE SULFATE
     Indication: Fibromyalgia
     Dosage: 10 MG, QD
     Route: 065
  250. MORPHINE SULFATE [Suspect]
     Active Substance: MORPHINE SULFATE
     Indication: Pain
     Dosage: 100 MG, QD
     Route: 065
  251. DILTIAZEM HYDROCHLORIDE [Suspect]
     Active Substance: DILTIAZEM HYDROCHLORIDE
     Indication: Coronary artery disease
     Dosage: 360 MG QD, DAILY (EXTENDED RELEASE)
     Route: 065
  252. DILTIAZEM HYDROCHLORIDE [Suspect]
     Active Substance: DILTIAZEM HYDROCHLORIDE
     Indication: Hypertension
     Route: 065
  253. DILTIAZEM HYDROCHLORIDE [Suspect]
     Active Substance: DILTIAZEM HYDROCHLORIDE
     Indication: Angina pectoris
     Route: 065
  254. DILTIAZEM HYDROCHLORIDE [Suspect]
     Active Substance: DILTIAZEM HYDROCHLORIDE
     Indication: Chest pain
     Route: 065
  255. DILTIAZEM HYDROCHLORIDE [Suspect]
     Active Substance: DILTIAZEM HYDROCHLORIDE
     Dosage: 500 MG, QD 360 MG, DAILY
     Route: 065
  256. MINERALS\VITAMINS [Suspect]
     Active Substance: MINERALS\VITAMINS
     Indication: Product used for unknown indication
     Route: 065
  257. GLUCOSAMINE SULFATE [Suspect]
     Active Substance: GLUCOSAMINE SULFATE
     Indication: Arthritis
     Dosage: 500 MG, BID
     Route: 065
  258. GLUCOSAMINE SULFATE [Suspect]
     Active Substance: GLUCOSAMINE SULFATE
     Indication: Product used for unknown indication
     Route: 065
  259. GLUCOSAMINE SULFATE [Suspect]
     Active Substance: GLUCOSAMINE SULFATE
     Route: 065
  260. GLUCOSAMINE SULFATE [Suspect]
     Active Substance: GLUCOSAMINE SULFATE
     Route: 030
  261. GLUCOSAMINE SULFATE [Suspect]
     Active Substance: GLUCOSAMINE SULFATE
     Route: 030
  262. GLUCOSAMINE SULFATE [Suspect]
     Active Substance: GLUCOSAMINE SULFATE
     Route: 065
  263. GLUCOSAMINE SULFATE [Suspect]
     Active Substance: GLUCOSAMINE SULFATE
     Dosage: 75 MG, QD DAILY
     Route: 065
  264. GLUCOSAMINE SULFATE [Suspect]
     Active Substance: GLUCOSAMINE SULFATE
     Route: 048
  265. GLUCOSAMINE SULFATE [Suspect]
     Active Substance: GLUCOSAMINE SULFATE
     Dosage: 5 MG, QD
     Route: 065
  266. GLUCOSAMINE SULFATE [Suspect]
     Active Substance: GLUCOSAMINE SULFATE
     Route: 065
  267. GLUCOSAMINE SULFATE [Suspect]
     Active Substance: GLUCOSAMINE SULFATE
     Route: 065
  268. GLUCOSAMINE SULFATE [Suspect]
     Active Substance: GLUCOSAMINE SULFATE
     Route: 065
  269. GLUCOSAMINE SULFATE [Suspect]
     Active Substance: GLUCOSAMINE SULFATE
     Dosage: 50 MG, QD DAILY
     Route: 065
  270. GLUCOSAMINE SULFATE [Suspect]
     Active Substance: GLUCOSAMINE SULFATE
     Dosage: 50 MG, QD DAILY
     Route: 065
  271. GLUCOSAMINE SULFATE [Suspect]
     Active Substance: GLUCOSAMINE SULFATE
     Dosage: 75 MG, QD DAILY
     Route: 065
  272. GLUCOSAMINE SULFATE [Suspect]
     Active Substance: GLUCOSAMINE SULFATE
     Dosage: 75 MG, QD DAILY
     Route: 065
  273. GLUCOSAMINE SULFATE [Suspect]
     Active Substance: GLUCOSAMINE SULFATE
     Route: 065
  274. GLUCOSAMINE SULFATE [Suspect]
     Active Substance: GLUCOSAMINE SULFATE
     Route: 065
  275. GLUCOSAMINE SULFATE [Suspect]
     Active Substance: GLUCOSAMINE SULFATE
     Route: 048
  276. GLUCOSAMINE SULFATE [Suspect]
     Active Substance: GLUCOSAMINE SULFATE
     Route: 065
  277. GLUCOSAMINE SULFATE [Suspect]
     Active Substance: GLUCOSAMINE SULFATE
     Route: 065
  278. GLUCOSAMINE SULFATE [Suspect]
     Active Substance: GLUCOSAMINE SULFATE
     Route: 065
  279. GALANTAMINE HYDROBROMIDE [Interacting]
     Active Substance: GALANTAMINE HYDROBROMIDE
     Indication: Dementia
     Route: 065
  280. GALANTAMINE HYDROBROMIDE [Interacting]
     Active Substance: GALANTAMINE HYDROBROMIDE
     Indication: Constipation
     Dosage: 16 MG QD (40 MG, DAILY16 MG, 1 EVERY 1 DAY)
     Route: 065
  281. GALANTAMINE HYDROBROMIDE [Interacting]
     Active Substance: GALANTAMINE HYDROBROMIDE
     Route: 065
  282. GALANTAMINE HYDROBROMIDE [Interacting]
     Active Substance: GALANTAMINE HYDROBROMIDE
     Route: 065
  283. GALANTAMINE HYDROBROMIDE [Interacting]
     Active Substance: GALANTAMINE HYDROBROMIDE
     Route: 065
  284. GALANTAMINE HYDROBROMIDE [Interacting]
     Active Substance: GALANTAMINE HYDROBROMIDE
     Route: 065
  285. LACTULOSE [Suspect]
     Active Substance: LACTULOSE
     Indication: Thyroid disorder
     Dosage: 30 MG, QD
     Route: 048
  286. LACTULOSE [Suspect]
     Active Substance: LACTULOSE
     Indication: Radioactive iodine therapy
     Dosage: 15 MG, QD DAILY
     Route: 065
  287. LACTULOSE [Suspect]
     Active Substance: LACTULOSE
     Indication: Urinary tract infection
     Route: 048
  288. LACTULOSE [Suspect]
     Active Substance: LACTULOSE
     Indication: Constipation
     Dosage: 15 MG, QD DAILY
     Route: 048
  289. LACTULOSE [Suspect]
     Active Substance: LACTULOSE
     Route: 065
  290. LACTULOSE [Suspect]
     Active Substance: LACTULOSE
     Dosage: 15 DOSAGE FORM QD (15 ML, DAILY)
     Route: 048
  291. LACTULOSE [Suspect]
     Active Substance: LACTULOSE
     Dosage: 15 MG, QD DAILY
     Route: 048
  292. LACTULOSE [Suspect]
     Active Substance: LACTULOSE
     Route: 065
  293. LACTULOSE [Suspect]
     Active Substance: LACTULOSE
     Route: 048
  294. LACTULOSE [Suspect]
     Active Substance: LACTULOSE
     Route: 048
  295. LACTULOSE [Suspect]
     Active Substance: LACTULOSE
     Dosage: 15 MG QD DAILY
     Route: 048
  296. LACTULOSE [Suspect]
     Active Substance: LACTULOSE
     Dosage: 2 DOSAGE FORM QD (DAILY)
     Route: 065
  297. LACTULOSE [Suspect]
     Active Substance: LACTULOSE
     Dosage: 15 ML, QD
     Route: 065
  298. LACTULOSE [Suspect]
     Active Substance: LACTULOSE
     Route: 048
  299. LACTULOSE [Suspect]
     Active Substance: LACTULOSE
     Route: 048
  300. LACTULOSE [Suspect]
     Active Substance: LACTULOSE
     Route: 065
  301. ALBUTEROL SULFATE [Suspect]
     Active Substance: ALBUTEROL SULFATE
     Indication: Chest pain
     Route: 065
  302. ALBUTEROL SULFATE [Suspect]
     Active Substance: ALBUTEROL SULFATE
     Indication: Coronary artery disease
     Dosage: UNK, QID (2 PUFFS FOUR TIMES DAILY IF NEEDED)
     Route: 065
  303. ALBUTEROL SULFATE [Suspect]
     Active Substance: ALBUTEROL SULFATE
     Indication: Angina pectoris
     Dosage: 100 MG, QD
     Route: 065
  304. ALBUTEROL SULFATE [Suspect]
     Active Substance: ALBUTEROL SULFATE
     Indication: Hypertension
     Dosage: 1600 MG, QD (400 MG, Q6H)
     Route: 065
  305. ALBUTEROL SULFATE [Suspect]
     Active Substance: ALBUTEROL SULFATE
     Indication: Chronic obstructive pulmonary disease
     Dosage: 800 MG, QD (200 MG, Q6H)
     Route: 065
  306. ALBUTEROL SULFATE [Suspect]
     Active Substance: ALBUTEROL SULFATE
     Dosage: 800 UG, QD (200 MCG, Q6H  )
     Route: 065
  307. ALBUTEROL SULFATE [Suspect]
     Active Substance: ALBUTEROL SULFATE
     Route: 065
  308. ALBUTEROL SULFATE [Suspect]
     Active Substance: ALBUTEROL SULFATE
     Dosage: 100 MG, QD
     Route: 065
  309. ALBUTEROL SULFATE [Suspect]
     Active Substance: ALBUTEROL SULFATE
     Dosage: 100 MG, QD (100 MCG, DAILY (100 MCG PER INHALATION DAILY) )
     Route: 055
  310. LEVOTHYROXINE [Suspect]
     Active Substance: LEVOTHYROXINE
     Indication: Product used for unknown indication
     Dosage: 200 MG, QD
     Route: 065
  311. LEVOTHYROXINE [Suspect]
     Active Substance: LEVOTHYROXINE
     Dosage: 2 DOSAGE FORM, Q12H
     Route: 065
  312. LEVOTHYROXINE [Suspect]
     Active Substance: LEVOTHYROXINE
     Route: 065
  313. LEVOTHYROXINE [Suspect]
     Active Substance: LEVOTHYROXINE
     Dosage: 100 MG, Q12H
     Route: 065
  314. LEVOTHYROXINE [Suspect]
     Active Substance: LEVOTHYROXINE
     Dosage: 200 MG, Q12H
     Route: 065
  315. LEVOTHYROXINE [Suspect]
     Active Substance: LEVOTHYROXINE
     Dosage: 1 DOSAGE FORM QD DAILY
     Route: 065
  316. LEVOTHYROXINE [Suspect]
     Active Substance: LEVOTHYROXINE
     Dosage: 1 DOSAGE FORM Q12H (1 EVERY 12 HOURS)
     Route: 065
  317. LEVOTHYROXINE [Suspect]
     Active Substance: LEVOTHYROXINE
     Route: 065
  318. LEVOTHYROXINE [Suspect]
     Active Substance: LEVOTHYROXINE
     Dosage: UNK, Q12H (Q12H(1 EVERY 12 HOURS))
     Route: 065
  319. LEVOTHYROXINE [Suspect]
     Active Substance: LEVOTHYROXINE
     Dosage: 200 MG, QD (DAILY)
     Route: 065
  320. LEVOTHYROXINE [Suspect]
     Active Substance: LEVOTHYROXINE
     Dosage: 800 MG, Q12H
     Route: 065
  321. LEVOTHYROXINE [Suspect]
     Active Substance: LEVOTHYROXINE
     Dosage: 400 MG, QD (DAILY)
     Route: 065
  322. LEVOTHYROXINE [Suspect]
     Active Substance: LEVOTHYROXINE
     Dosage: 200 MG, Q12H
     Route: 065
  323. LEVOTHYROXINE [Suspect]
     Active Substance: LEVOTHYROXINE
     Dosage: 500 MG, Q12H
     Route: 065
  324. LEVOTHYROXINE [Suspect]
     Active Substance: LEVOTHYROXINE
     Dosage: 1 DOSAGE FORM, Q12H
     Route: 065
  325. LEVOTHYROXINE [Suspect]
     Active Substance: LEVOTHYROXINE
     Route: 065
  326. LEVOTHYROXINE [Suspect]
     Active Substance: LEVOTHYROXINE
     Dosage: 100 MG, QD (DAILY)
     Route: 065
  327. LEVOTHYROXINE [Suspect]
     Active Substance: LEVOTHYROXINE
     Route: 065
  328. LEVOTHYROXINE [Suspect]
     Active Substance: LEVOTHYROXINE
     Route: 065
  329. LEVOTHYROXINE [Suspect]
     Active Substance: LEVOTHYROXINE
     Dosage: 2 DOSAGE FORM, QD (2 DF, DAILY)
     Route: 065
  330. LEVOTHYROXINE [Suspect]
     Active Substance: LEVOTHYROXINE
     Dosage: 0.008 MG, QD
     Route: 048
  331. LEVOTHYROXINE [Suspect]
     Active Substance: LEVOTHYROXINE
     Dosage: 0.008 MG, QD
     Route: 048
  332. LEVOTHYROXINE [Suspect]
     Active Substance: LEVOTHYROXINE
     Dosage: 0.08 MG, QD
     Route: 065
  333. LEVOTHYROXINE [Suspect]
     Active Substance: LEVOTHYROXINE
     Dosage: UNK, QD
     Route: 065
  334. LEVOTHYROXINE [Suspect]
     Active Substance: LEVOTHYROXINE
     Dosage: 88 MG, QD
     Route: 065
  335. LEVOTHYROXINE [Suspect]
     Active Substance: LEVOTHYROXINE
     Dosage: 88 NG, QD
     Route: 065
  336. LEVOTHYROXINE [Suspect]
     Active Substance: LEVOTHYROXINE
     Dosage: 400 MG, Q12H
     Route: 065
  337. LEVOTHYROXINE [Suspect]
     Active Substance: LEVOTHYROXINE
     Route: 065
  338. CURCUMIN [Suspect]
     Active Substance: CURCUMIN
     Indication: Product used for unknown indication
     Route: 065
  339. CRANBERRY [Suspect]
     Active Substance: CRANBERRY
     Route: 065
  340. CURCUMIN [Suspect]
     Active Substance: CURCUMIN
     Route: 065
  341. CRANBERRY [Suspect]
     Active Substance: CRANBERRY
     Route: 065
  342. CURCUMIN [Suspect]
     Active Substance: CURCUMIN
     Route: 065
  343. DIAZEPAM [Suspect]
     Active Substance: DIAZEPAM
     Indication: Product used for unknown indication
     Dosage: 75 MG, QD
     Route: 065
  344. DIAZEPAM [Suspect]
     Active Substance: DIAZEPAM
     Dosage: 15 MG, QD
     Route: 065
  345. DIAZEPAM [Suspect]
     Active Substance: DIAZEPAM
     Dosage: 360 MG, QD (360 MG, DAILY)
     Route: 065
  346. DIAZEPAM [Suspect]
     Active Substance: DIAZEPAM
     Dosage: 360 MG, QD DAILY
     Route: 065
  347. DIAZEPAM [Suspect]
     Active Substance: DIAZEPAM
     Dosage: 300 MG, QD DAILY
     Route: 065
  348. DIAZEPAM [Suspect]
     Active Substance: DIAZEPAM
     Dosage: 115 MG, QD DAILY
     Route: 065
  349. DIAZEPAM [Suspect]
     Active Substance: DIAZEPAM
     Dosage: 360 MG, QD DAILY
     Route: 065
  350. DIAZEPAM [Suspect]
     Active Substance: DIAZEPAM
     Route: 065
  351. DIAZEPAM [Suspect]
     Active Substance: DIAZEPAM
     Dosage: 500 MG, QD DAILY
     Route: 065
  352. DIAZEPAM [Suspect]
     Active Substance: DIAZEPAM
     Dosage: 360 MG, QD DAILY
     Route: 065
  353. DIAZEPAM [Suspect]
     Active Substance: DIAZEPAM
     Dosage: 360 MG, QD DAILY
     Route: 065
  354. DIAZEPAM [Suspect]
     Active Substance: DIAZEPAM
     Dosage: 360 MG, QD DAILY
     Route: 065
  355. DIAZEPAM [Suspect]
     Active Substance: DIAZEPAM
     Route: 065
  356. DIAZEPAM [Suspect]
     Active Substance: DIAZEPAM
     Dosage: 36 MG, QD DAILY
     Route: 065
  357. DIAZEPAM [Suspect]
     Active Substance: DIAZEPAM
     Route: 065
  358. DIAZEPAM [Suspect]
     Active Substance: DIAZEPAM
     Route: 065
  359. GLYCERIN [Suspect]
     Active Substance: GLYCERIN
     Indication: Product used for unknown indication
     Route: 065
  360. GLYCERIN [Suspect]
     Active Substance: GLYCERIN
     Indication: Coronary artery disease
  361. GLYCERIN [Suspect]
     Active Substance: GLYCERIN
     Indication: Chest pain
  362. GLYCERIN [Suspect]
     Active Substance: GLYCERIN
     Indication: Angina pectoris
  363. GLYCERIN [Suspect]
     Active Substance: GLYCERIN
     Indication: Hypertension
  364. GLYCERIN [Suspect]
     Active Substance: GLYCERIN
     Indication: Product used for unknown indication
  365. GLYCERIN [Suspect]
     Active Substance: GLYCERIN
     Indication: Fibromyalgia
  366. POLYSORBATE 80 [Suspect]
     Active Substance: POLYSORBATE 80
     Indication: Product used for unknown indication
     Route: 065
  367. AMBROXOL HYDROCHLORIDE\CLENBUTEROL [Suspect]
     Active Substance: AMBROXOL HYDROCHLORIDE\CLENBUTEROL
     Indication: Product used for unknown indication
     Dosage: 620 MG, Q12H
     Route: 065
  368. AMBROXOL HYDROCHLORIDE\CLENBUTEROL [Suspect]
     Active Substance: AMBROXOL HYDROCHLORIDE\CLENBUTEROL
     Route: 065
  369. CRANBERRY [Suspect]
     Active Substance: CRANBERRY
     Indication: Bladder disorder
     Dosage: 360 MG, QD
     Route: 042
  370. CRANBERRY [Suspect]
     Active Substance: CRANBERRY
     Indication: Chronic obstructive pulmonary disease
     Dosage: 500 MG, QD DAILY
     Route: 065
  371. CRANBERRY [Suspect]
     Active Substance: CRANBERRY
     Dosage: 36 MG, QD DAILY
     Route: 042
  372. CRANBERRY [Suspect]
     Active Substance: CRANBERRY
     Dosage: 1 DOSAGE FORM, QD DAILY
     Route: 065
  373. CRANBERRY [Suspect]
     Active Substance: CRANBERRY
     Dosage: 40 MG, QD DAILY
     Route: 065
  374. CRANBERRY [Suspect]
     Active Substance: CRANBERRY
     Dosage: 300 MG, QD DAILY
     Route: 065
  375. CRANBERRY [Suspect]
     Active Substance: CRANBERRY
     Dosage: 15 MG, QD
     Route: 042
  376. CRANBERRY [Suspect]
     Active Substance: CRANBERRY
     Dosage: UNK, QD
     Route: 065
  377. AMINOPHYLLINE [Suspect]
     Active Substance: AMINOPHYLLINE
     Indication: Coronary artery disease
     Route: 065
  378. ATROPINE [Suspect]
     Active Substance: ATROPINE
     Indication: Chest pain
     Dosage: 6 MG, QD 6 MG, DAILY(1 EVERY 1 DAYS)  TOPICAL
     Route: 050
  379. NITROGLYCERIN [Suspect]
     Active Substance: NITROGLYCERIN
     Indication: Angina pectoris
  380. FRUCTOSE\GLYCERIN\SODIUM CHLORIDE [Suspect]
     Active Substance: FRUCTOSE\GLYCERIN\SODIUM CHLORIDE
     Indication: Product used for unknown indication
     Dosage: 0.4 MG, QD DAILY
     Route: 065
  381. FRUCTOSE\GLYCERIN\SODIUM CHLORIDE [Suspect]
     Active Substance: FRUCTOSE\GLYCERIN\SODIUM CHLORIDE
     Dosage: 1 DOSAGE FORM QD DAILY
     Route: 065
  382. FRUCTOSE\GLYCERIN\SODIUM CHLORIDE [Suspect]
     Active Substance: FRUCTOSE\GLYCERIN\SODIUM CHLORIDE
     Route: 064
  383. FRUCTOSE\GLYCERIN\SODIUM CHLORIDE [Suspect]
     Active Substance: FRUCTOSE\GLYCERIN\SODIUM CHLORIDE
     Dosage: 4 MG QD DAILY
     Route: 065
  384. FRUCTOSE\GLYCERIN\SODIUM CHLORIDE [Suspect]
     Active Substance: FRUCTOSE\GLYCERIN\SODIUM CHLORIDE
     Route: 065
  385. FRUCTOSE\GLYCERIN\SODIUM CHLORIDE [Suspect]
     Active Substance: FRUCTOSE\GLYCERIN\SODIUM CHLORIDE
     Route: 065
  386. PICOLAX (ANHYDROUS CITRIC ACID\MAGNESIUM OXIDE\SODIUM PICOSULFATE) [Suspect]
     Active Substance: ANHYDROUS CITRIC ACID\MAGNESIUM OXIDE\SODIUM PICOSULFATE
     Indication: Product used for unknown indication
     Route: 065
  387. TIOTROPIUM BROMIDE MONOHYDRATE [Suspect]
     Active Substance: TIOTROPIUM BROMIDE MONOHYDRATE
     Indication: Product used for unknown indication
     Dosage: 1 DOSAGE FORM QD, DAILY
     Route: 061
  388. TIOTROPIUM BROMIDE MONOHYDRATE [Suspect]
     Active Substance: TIOTROPIUM BROMIDE MONOHYDRATE
     Dosage: 0.6 MG, QD DAILY
     Route: 061
  389. TIOTROPIUM BROMIDE MONOHYDRATE [Suspect]
     Active Substance: TIOTROPIUM BROMIDE MONOHYDRATE
     Route: 065
  390. TIOTROPIUM BROMIDE MONOHYDRATE [Suspect]
     Active Substance: TIOTROPIUM BROMIDE MONOHYDRATE
     Dosage: 6 MG, QD
     Route: 061
  391. TIOTROPIUM BROMIDE MONOHYDRATE [Suspect]
     Active Substance: TIOTROPIUM BROMIDE MONOHYDRATE
     Route: 065
  392. TIOTROPIUM BROMIDE MONOHYDRATE [Suspect]
     Active Substance: TIOTROPIUM BROMIDE MONOHYDRATE
     Dosage: 0.6 MG, Q1H
     Route: 061
  393. TIOTROPIUM BROMIDE MONOHYDRATE [Suspect]
     Active Substance: TIOTROPIUM BROMIDE MONOHYDRATE
     Route: 065
  394. TIOTROPIUM BROMIDE MONOHYDRATE [Suspect]
     Active Substance: TIOTROPIUM BROMIDE MONOHYDRATE
     Route: 065
  395. TIOTROPIUM BROMIDE MONOHYDRATE [Suspect]
     Active Substance: TIOTROPIUM BROMIDE MONOHYDRATE
     Route: 065
  396. TIOTROPIUM BROMIDE MONOHYDRATE [Suspect]
     Active Substance: TIOTROPIUM BROMIDE MONOHYDRATE
     Route: 048
  397. TIOTROPIUM BROMIDE MONOHYDRATE [Suspect]
     Active Substance: TIOTROPIUM BROMIDE MONOHYDRATE
     Route: 048
  398. TIOTROPIUM BROMIDE MONOHYDRATE [Suspect]
     Active Substance: TIOTROPIUM BROMIDE MONOHYDRATE
     Route: 065
  399. TIOTROPIUM BROMIDE MONOHYDRATE [Suspect]
     Active Substance: TIOTROPIUM BROMIDE MONOHYDRATE
     Route: 065
  400. TIOTROPIUM BROMIDE MONOHYDRATE [Suspect]
     Active Substance: TIOTROPIUM BROMIDE MONOHYDRATE
     Dosage: 0.4 DOSAGE FORM QD, DAILY
     Route: 061
  401. TIOTROPIUM BROMIDE MONOHYDRATE [Suspect]
     Active Substance: TIOTROPIUM BROMIDE MONOHYDRATE
     Route: 065
  402. TIOTROPIUM BROMIDE MONOHYDRATE [Suspect]
     Active Substance: TIOTROPIUM BROMIDE MONOHYDRATE
     Route: 065
  403. HYDROCHLOROTHIAZIDE\QUINAPRIL HYDROCHLORIDE [Suspect]
     Active Substance: HYDROCHLOROTHIAZIDE\QUINAPRIL HYDROCHLORIDE
     Indication: Product used for unknown indication
     Route: 065
  404. SODIUM PICOSULFATE [Suspect]
     Active Substance: SODIUM PICOSULFATE
     Indication: Product used for unknown indication
     Route: 065
  405. DOCUSATE SODIUM\PHENOLPHTHALEIN [Suspect]
     Active Substance: DOCUSATE SODIUM\PHENOLPHTHALEIN
     Indication: Product used for unknown indication
     Route: 065
  406. DOCUSATE SODIUM\PHENOLPHTHALEIN [Suspect]
     Active Substance: DOCUSATE SODIUM\PHENOLPHTHALEIN
     Route: 065
  407. DROTAVERINE [Suspect]
     Active Substance: DROTAVERINE
     Indication: Product used for unknown indication
     Route: 065
  408. SENNOSIDES A AND B [Interacting]
     Active Substance: SENNOSIDES A AND B
     Indication: Product used for unknown indication
     Route: 065
  409. SODIUM ALGINATE [Interacting]
     Active Substance: SODIUM ALGINATE
     Route: 065
  410. PLANTAGO SEED\SENNOSIDES [Suspect]
     Active Substance: PLANTAGO SEED\SENNOSIDES
     Indication: Constipation
     Route: 065
  411. ERGOCALCIFEROL [Suspect]
     Active Substance: ERGOCALCIFEROL
     Indication: Product used for unknown indication
     Route: 065
  412. DILTIAZEM HYDROCHLORIDE [Suspect]
     Active Substance: DILTIAZEM HYDROCHLORIDE
     Indication: Product used for unknown indication
     Dosage: 6 MG, DAILY(1 EVERY 1 DAYS)
     Route: 065
  413. DILTIAZEM HYDROCHLORIDE [Suspect]
     Active Substance: DILTIAZEM HYDROCHLORIDE
     Route: 065
  414. DILTIAZEM HYDROCHLORIDE [Suspect]
     Active Substance: DILTIAZEM HYDROCHLORIDE
     Route: 065
  415. SALICYLAMIDE [Suspect]
     Active Substance: SALICYLAMIDE
     Indication: Pain
     Route: 065
  416. ASPIRIN [Suspect]
     Active Substance: ASPIRIN
     Indication: Hypertension
     Route: 065
  417. ASPIRIN [Suspect]
     Active Substance: ASPIRIN
     Indication: Angina pectoris
  418. ASPIRIN [Suspect]
     Active Substance: ASPIRIN
     Indication: Coronary artery disease
  419. POTASSIUM SORBATE [Suspect]
     Active Substance: POTASSIUM SORBATE
     Indication: Product used for unknown indication
     Route: 065
  420. POTASSIUM SORBATE [Suspect]
     Active Substance: POTASSIUM SORBATE
     Route: 065
  421. POTASSIUM SORBATE [Suspect]
     Active Substance: POTASSIUM SORBATE
     Route: 065
  422. BISACODYL [Suspect]
     Active Substance: BISACODYL
     Indication: Constipation
     Route: 048
  423. PHENYLEPHRINE HYDROCHLORIDE [Suspect]
     Active Substance: PHENYLEPHRINE HYDROCHLORIDE
     Indication: Product used for unknown indication
     Route: 065
  424. POLYSORBATE 20 [Suspect]
     Active Substance: POLYSORBATE 20
     Indication: Insomnia
     Route: 065
  425. PHENOLPHTHALEIN [Suspect]
     Active Substance: PHENOLPHTHALEIN
     Indication: Product used for unknown indication
     Dosage: 88 NG, QD DAILY
     Route: 065
  426. PHENOLPHTHALEIN [Suspect]
     Active Substance: PHENOLPHTHALEIN
     Dosage: 0.088 MG, DAILY
     Route: 048
  427. PHENOLPHTHALEIN [Suspect]
     Active Substance: PHENOLPHTHALEIN
     Dosage: 0.88 MG, QD DAILY
     Route: 048
  428. PHENOLPHTHALEIN [Suspect]
     Active Substance: PHENOLPHTHALEIN
     Route: 065
  429. PHENOLPHTHALEIN [Suspect]
     Active Substance: PHENOLPHTHALEIN
     Dosage: 0.8 MG, QD DAILY
     Route: 065
  430. PHENOLPHTHALEIN [Suspect]
     Active Substance: PHENOLPHTHALEIN
     Dosage: 0.09 MG, QD
     Route: 048
  431. PHENOLPHTHALEIN [Suspect]
     Active Substance: PHENOLPHTHALEIN
     Dosage: 88 MG, QD DAILY
     Route: 065
  432. PHENOLPHTHALEIN [Suspect]
     Active Substance: PHENOLPHTHALEIN
     Dosage: UNK, QD DAILY
     Route: 065
  433. PHENOLPHTHALEIN [Suspect]
     Active Substance: PHENOLPHTHALEIN
     Route: 065
  434. QUININE [Suspect]
     Active Substance: QUININE
     Indication: Product used for unknown indication
     Route: 065
  435. PERPHENAZINE [Suspect]
     Active Substance: PERPHENAZINE
     Indication: Product used for unknown indication
     Dosage: 650 MG QD, DAILY
     Route: 065
  436. PERPHENAZINE [Suspect]
     Active Substance: PERPHENAZINE
     Route: 065
  437. ROSUVASTATIN CALCIUM [Suspect]
     Active Substance: ROSUVASTATIN CALCIUM
     Indication: Cerebrovascular accident
     Dosage: 20 MG, BID
     Route: 048
     Dates: start: 2008
  438. ROSUVASTATIN CALCIUM [Suspect]
     Active Substance: ROSUVASTATIN CALCIUM
     Indication: Cerebrovascular accident
     Route: 065
  439. ROSUVASTATIN CALCIUM [Suspect]
     Active Substance: ROSUVASTATIN CALCIUM
     Indication: Insomnia
     Dosage: 100 MG, QD DAILY
     Route: 065
  440. ROSUVASTATIN CALCIUM [Suspect]
     Active Substance: ROSUVASTATIN CALCIUM
     Indication: Coronary artery disease
     Dosage: 1000 MG QD(200 MILLIGRAM, EVERY 5 DAY)
     Route: 065
  441. ROSUVASTATIN CALCIUM [Suspect]
     Active Substance: ROSUVASTATIN CALCIUM
     Indication: Hypertension
     Dosage: 500 MG QD (500 MILLIGRAM, DAILY)
     Route: 065
  442. ROSUVASTATIN CALCIUM [Suspect]
     Active Substance: ROSUVASTATIN CALCIUM
     Indication: Chest pain
     Dosage: 400 MG, QD DAILY
     Route: 065
  443. ROSUVASTATIN CALCIUM [Suspect]
     Active Substance: ROSUVASTATIN CALCIUM
     Indication: Angina pectoris
     Route: 065
  444. ROSUVASTATIN CALCIUM [Suspect]
     Active Substance: ROSUVASTATIN CALCIUM
     Indication: Chronic obstructive pulmonary disease
     Dosage: 400 MG, QD DAILY
     Route: 065
  445. ROSUVASTATIN CALCIUM [Suspect]
     Active Substance: ROSUVASTATIN CALCIUM
     Dosage: 200 MG, QD DAILY
     Route: 065
  446. ROSUVASTATIN CALCIUM [Suspect]
     Active Substance: ROSUVASTATIN CALCIUM
     Dosage: 50 MG QD (50 MILLIGRAM, DAILY (1 EVERY 1 DAYS)
     Route: 065
  447. ROSUVASTATIN CALCIUM [Suspect]
     Active Substance: ROSUVASTATIN CALCIUM
     Dosage: 200 MG, Q12H
     Route: 065
  448. ROSUVASTATIN CALCIUM [Suspect]
     Active Substance: ROSUVASTATIN CALCIUM
     Dosage: 100 MG QD (50 MG, BID)
     Route: 065
  449. ROSUVASTATIN CALCIUM [Suspect]
     Active Substance: ROSUVASTATIN CALCIUM
     Dosage: 200 MG, Q12H
     Route: 065
  450. ROSUVASTATIN CALCIUM [Suspect]
     Active Substance: ROSUVASTATIN CALCIUM
     Route: 065
  451. ROSUVASTATIN CALCIUM [Suspect]
     Active Substance: ROSUVASTATIN CALCIUM
     Route: 065
  452. ROSUVASTATIN CALCIUM [Suspect]
     Active Substance: ROSUVASTATIN CALCIUM
     Route: 065
  453. ROSUVASTATIN CALCIUM [Suspect]
     Active Substance: ROSUVASTATIN CALCIUM
     Route: 065
  454. ROSUVASTATIN CALCIUM [Suspect]
     Active Substance: ROSUVASTATIN CALCIUM
     Dosage: 100 MG, Q12H
     Route: 065
  455. ROSUVASTATIN CALCIUM [Suspect]
     Active Substance: ROSUVASTATIN CALCIUM
     Dosage: 100 MG (EVERY 1 HOURS)
     Route: 065
  456. ROSUVASTATIN CALCIUM [Suspect]
     Active Substance: ROSUVASTATIN CALCIUM
     Route: 065
  457. ROSUVASTATIN CALCIUM [Suspect]
     Active Substance: ROSUVASTATIN CALCIUM
     Dosage: 1000 MG QD (200 MG, 5/DAY)
     Route: 065
  458. ROSUVASTATIN CALCIUM [Suspect]
     Active Substance: ROSUVASTATIN CALCIUM
     Dosage: 200 MG QD (200 MG, DAILY)
     Route: 065
  459. ROSUVASTATIN CALCIUM [Suspect]
     Active Substance: ROSUVASTATIN CALCIUM
     Dosage: 800 MG QD (400 MG BID(1 EVERY 12HOURS))
     Route: 065
  460. ROSUVASTATIN CALCIUM [Suspect]
     Active Substance: ROSUVASTATIN CALCIUM
     Route: 065
  461. ROSUVASTATIN CALCIUM [Suspect]
     Active Substance: ROSUVASTATIN CALCIUM
     Dosage: 200 MG, Q12H
     Route: 065
  462. ROSUVASTATIN CALCIUM [Suspect]
     Active Substance: ROSUVASTATIN CALCIUM
     Dosage: 400 MG QW (1/WEEK)
     Route: 065
  463. ROSUVASTATIN CALCIUM [Suspect]
     Active Substance: ROSUVASTATIN CALCIUM
     Route: 065
  464. ROSUVASTATIN CALCIUM [Suspect]
     Active Substance: ROSUVASTATIN CALCIUM
     Dosage: 500 MG QD (100 MILLIGRAM, EVERY 5 DAYS)
     Route: 065
  465. ROSUVASTATIN CALCIUM [Suspect]
     Active Substance: ROSUVASTATIN CALCIUM
     Route: 065
  466. ROSUVASTATIN CALCIUM [Suspect]
     Active Substance: ROSUVASTATIN CALCIUM
     Route: 065
  467. ROSUVASTATIN CALCIUM [Suspect]
     Active Substance: ROSUVASTATIN CALCIUM
     Dosage: 200 MG QD (100 MG, BID)
     Route: 065
  468. ROSUVASTATIN CALCIUM [Suspect]
     Active Substance: ROSUVASTATIN CALCIUM
     Dosage: 100 MG QD (50 MG, 2 EVERY 2 DAYS)
     Route: 065
  469. ROSUVASTATIN CALCIUM [Suspect]
     Active Substance: ROSUVASTATIN CALCIUM
     Route: 065
  470. ROSUVASTATIN CALCIUM [Suspect]
     Active Substance: ROSUVASTATIN CALCIUM
     Route: 065
  471. ROSUVASTATIN CALCIUM [Suspect]
     Active Substance: ROSUVASTATIN CALCIUM
     Dosage: 400 MG, QD (200 MG, BID)
     Route: 065
  472. ROSUVASTATIN CALCIUM [Suspect]
     Active Substance: ROSUVASTATIN CALCIUM
     Route: 065
  473. CRANBERRY [Suspect]
     Active Substance: CRANBERRY
     Indication: Bladder ablation
     Dosage: 500 MG, TID (EVERY 8 HRS)
     Route: 065
  474. CRANBERRY [Suspect]
     Active Substance: CRANBERRY
     Indication: Bladder disorder
     Dosage: 1500 MG, QD (500 MG, Q8H)
     Route: 065
  475. CRANBERRY [Suspect]
     Active Substance: CRANBERRY
     Indication: Product used for unknown indication
     Dosage: 1500 MG, QD (500 MG, Q8H)
     Route: 065
  476. CRANBERRY [Suspect]
     Active Substance: CRANBERRY
     Dosage: 1500 MG, QD
     Route: 065
  477. CRANBERRY [Suspect]
     Active Substance: CRANBERRY
     Route: 065
  478. CRANBERRY [Suspect]
     Active Substance: CRANBERRY
     Route: 065
  479. CRANBERRY [Suspect]
     Active Substance: CRANBERRY
     Dosage: 500 MG, TID (EVERY 8 HRS)
     Route: 065
  480. CRANBERRY [Suspect]
     Active Substance: CRANBERRY
     Route: 065
  481. CAFFEINE [Suspect]
     Active Substance: CAFFEINE
     Indication: Product used for unknown indication
     Route: 065
  482. DULCOLAX (BISACODYL) [Suspect]
     Active Substance: BISACODYL
     Indication: Constipation
     Dosage: 2 DF, DAILY
     Route: 048
  483. DULCOLAX (BISACODYL) [Suspect]
     Active Substance: BISACODYL
     Indication: Hypertension
     Route: 048
  484. POLYSORBATE 40 [Suspect]
     Active Substance: POLYSORBATE 40
     Indication: Product used for unknown indication
     Route: 065
  485. POLYSORBATE 40 [Suspect]
     Active Substance: POLYSORBATE 40
     Route: 065
  486. DOCUSATE SODIUM [Suspect]
     Active Substance: DOCUSATE SODIUM
     Indication: Constipation
     Dosage: 18 MG, QD DAILY
     Route: 065
  487. DOCUSATE SODIUM [Suspect]
     Active Substance: DOCUSATE SODIUM
     Dosage: 16 MG, QD DAILY
     Route: 065
  488. DOCUSATE SODIUM [Suspect]
     Active Substance: DOCUSATE SODIUM
     Route: 065
  489. POLYSORBATE 85 [Suspect]
     Active Substance: POLYSORBATE 85
     Indication: Product used for unknown indication
     Route: 065
  490. POLYSORBATE 85 [Suspect]
     Active Substance: POLYSORBATE 85
     Dosage: 1 DOSAGE FORM, QD
     Route: 065
  491. POLYSORBATE 85 [Suspect]
     Active Substance: POLYSORBATE 85
     Route: 065
  492. POLYSORBATE 85 [Suspect]
     Active Substance: POLYSORBATE 85
     Dosage: 2 DF, QD
     Route: 048
  493. POLYSORBATE 85 [Suspect]
     Active Substance: POLYSORBATE 85
     Dosage: 650 MILLIGRAM QD, DAILY
     Route: 065
  494. POLYSORBATE 85 [Suspect]
     Active Substance: POLYSORBATE 85
     Dosage: UNK
     Route: 065
  495. POLYSORBATE 85 [Suspect]
     Active Substance: POLYSORBATE 85
     Dosage: UNK, QD DAILY
     Route: 065
  496. CHONDROITIN SULFATE (BOVINE)\GLUCOSAMINE SULFATE [Suspect]
     Active Substance: CHONDROITIN SULFATE (BOVINE)\GLUCOSAMINE SULFATE
     Indication: Product used for unknown indication
     Route: 065
  497. NITROGLYCERIN [Suspect]
     Active Substance: NITROGLYCERIN
     Indication: Coronary artery disease
     Route: 065
  498. NITROGLYCERIN [Suspect]
     Active Substance: NITROGLYCERIN
     Indication: Chest pain
     Dosage: 5 MILLIGRAM, Q8H
     Route: 065
  499. NITROGLYCERIN [Suspect]
     Active Substance: NITROGLYCERIN
     Indication: Angina pectoris
     Route: 065
  500. NITROGLYCERIN [Suspect]
     Active Substance: NITROGLYCERIN
     Indication: Hypertension
     Dosage: 15 MG, QD 3 EVERY 1 DAYS
     Route: 065
  501. NITROGLYCERIN [Suspect]
     Active Substance: NITROGLYCERIN
     Indication: Product used for unknown indication
     Dosage: 15 MILLIGRAM, Q8H
     Route: 065
  502. NITROGLYCERIN [Suspect]
     Active Substance: NITROGLYCERIN
     Route: 065
  503. NITROGLYCERIN [Suspect]
     Active Substance: NITROGLYCERIN
     Route: 065
  504. NITROGLYCERIN [Suspect]
     Active Substance: NITROGLYCERIN
     Route: 065
  505. NITROGLYCERIN [Suspect]
     Active Substance: NITROGLYCERIN
     Route: 065
  506. AGGRENOX [Suspect]
     Active Substance: ASPIRIN\DIPYRIDAMOLE
     Indication: Cerebrovascular accident
     Dosage: 225 MG, BID (200/25 MG) SINCE 2008
     Route: 065
     Dates: start: 2008
  507. AGGRENOX [Suspect]
     Active Substance: ASPIRIN\DIPYRIDAMOLE
     Indication: Arthritis
     Route: 065
  508. AGGRENOX [Suspect]
     Active Substance: ASPIRIN\DIPYRIDAMOLE
     Indication: Hypertension
     Dosage: 1 DOSAGE FORM, (1 DF, DAILY) QD
     Route: 065
  509. AGGRENOX [Suspect]
     Active Substance: ASPIRIN\DIPYRIDAMOLE
     Indication: Cerebrovascular accident
     Route: 065
  510. AGGRENOX [Suspect]
     Active Substance: ASPIRIN\DIPYRIDAMOLE
     Dosage: 650 MILLIGRAM, DAILY
     Route: 065
  511. AMLODIPINE MESYLATE [Suspect]
     Active Substance: AMLODIPINE MESYLATE
     Indication: Coronary artery disease
     Dosage: 5 MG, DAILY
     Route: 065
  512. AMLODIPINE MESYLATE [Suspect]
     Active Substance: AMLODIPINE MESYLATE
     Indication: Hypertension
     Dosage: 5 MG, DAILY
     Route: 065
  513. AMLODIPINE MESYLATE [Suspect]
     Active Substance: AMLODIPINE MESYLATE
     Indication: Product used for unknown indication
     Dosage: 5 MG, DAILY
     Route: 065
  514. AMLODIPINE MESYLATE [Suspect]
     Active Substance: AMLODIPINE MESYLATE
     Dosage: 5 MG, DAILY
     Route: 065
  515. AMLODIPINE MESYLATE [Suspect]
     Active Substance: AMLODIPINE MESYLATE
     Dosage: 5 MG, DAILY
     Route: 065
  516. AMLODIPINE MESYLATE [Suspect]
     Active Substance: AMLODIPINE MESYLATE
     Dosage: 5 MG, DAILY
     Route: 065
  517. AMLODIPINE MESYLATE [Suspect]
     Active Substance: AMLODIPINE MESYLATE
     Dosage: 5 MG, DAILY
     Route: 065
  518. AMLODIPINE MESYLATE [Suspect]
     Active Substance: AMLODIPINE MESYLATE
     Dosage: 5 MG, DAILY
     Route: 065
  519. AMLODIPINE MESYLATE [Suspect]
     Active Substance: AMLODIPINE MESYLATE
     Route: 065
  520. AMLODIPINE MESYLATE [Suspect]
     Active Substance: AMLODIPINE MESYLATE
     Dosage: 5 MG, DAILY
     Route: 065
  521. AMLODIPINE MESYLATE [Suspect]
     Active Substance: AMLODIPINE MESYLATE
     Dosage: 5 MG, DAILY
     Route: 065
  522. AMLODIPINE MESYLATE [Suspect]
     Active Substance: AMLODIPINE MESYLATE
     Dosage: 5 MG, DAILY
     Route: 065
  523. AMLODIPINE MESYLATE [Suspect]
     Active Substance: AMLODIPINE MESYLATE
     Dosage: 5 MG, DAILY
     Route: 065
  524. AMLODIPINE MESYLATE [Suspect]
     Active Substance: AMLODIPINE MESYLATE
     Dosage: 5 MG, DAILY
     Route: 065
  525. AMLODIPINE MESYLATE [Suspect]
     Active Substance: AMLODIPINE MESYLATE
     Dosage: 5 MG, DAILY
     Route: 065
  526. AMLODIPINE MESYLATE [Suspect]
     Active Substance: AMLODIPINE MESYLATE
     Dosage: 5 MG, DAILY
     Route: 065
  527. AMLODIPINE MESYLATE [Suspect]
     Active Substance: AMLODIPINE MESYLATE
     Dosage: 5 MG, DAILY
     Route: 065
  528. AMLODIPINE MESYLATE [Suspect]
     Active Substance: AMLODIPINE MESYLATE
     Dosage: 5 MG, DAILY
     Route: 065
  529. AMLODIPINE MESYLATE [Suspect]
     Active Substance: AMLODIPINE MESYLATE
     Dosage: 5 MG, DAILY
     Route: 065
  530. AMLODIPINE MESYLATE [Suspect]
     Active Substance: AMLODIPINE MESYLATE
     Dosage: 5 MG, DAILY
     Route: 065
  531. AMLODIPINE MESYLATE [Suspect]
     Active Substance: AMLODIPINE MESYLATE
     Dosage: 5 MG, DAILY
     Route: 065
  532. AMLODIPINE MESYLATE [Suspect]
     Active Substance: AMLODIPINE MESYLATE
     Route: 065
  533. AMLODIPINE MESYLATE [Suspect]
     Active Substance: AMLODIPINE MESYLATE
     Route: 065
  534. AMLODIPINE MESYLATE [Suspect]
     Active Substance: AMLODIPINE MESYLATE
     Route: 065
  535. AMLODIPINE MESYLATE [Suspect]
     Active Substance: AMLODIPINE MESYLATE
     Dosage: 5 MG, DAILY
     Route: 065
  536. AMLODIPINE MESYLATE [Suspect]
     Active Substance: AMLODIPINE MESYLATE
     Dosage: 5 MG, DAILY
     Route: 065
  537. AMLODIPINE MESYLATE [Suspect]
     Active Substance: AMLODIPINE MESYLATE
     Dosage: 5 MG, DAILY
     Route: 065
  538. AMLODIPINE MESYLATE [Suspect]
     Active Substance: AMLODIPINE MESYLATE
     Dosage: 5 MG, DAILY
     Route: 065
  539. AMLODIPINE MESYLATE [Suspect]
     Active Substance: AMLODIPINE MESYLATE
     Dosage: 5 MG, DAILY
     Route: 065
  540. AMLODIPINE MESYLATE [Suspect]
     Active Substance: AMLODIPINE MESYLATE
     Dosage: 5 MG, DAILY
     Route: 065
  541. CALCIUM CARBONATE [Suspect]
     Active Substance: CALCIUM CARBONATE
     Indication: Product used for unknown indication
     Route: 065
  542. CALCIUM CARBONATE [Suspect]
     Active Substance: CALCIUM CARBONATE
     Route: 065
  543. GALANTAMINE [Suspect]
     Active Substance: GALANTAMINE
     Indication: Product used for unknown indication
     Dosage: 15 MG, QD (DAILY)
     Route: 065
  544. GALANTAMINE [Suspect]
     Active Substance: GALANTAMINE
     Dosage: 15 MG, QD (DAILY)
     Route: 065
  545. GALANTAMINE [Suspect]
     Active Substance: GALANTAMINE
     Route: 065
  546. GALANTAMINE [Suspect]
     Active Substance: GALANTAMINE
     Dosage: UNK, QD (1 EVERY 1 DAYS)
     Route: 065
  547. GALANTAMINE [Suspect]
     Active Substance: GALANTAMINE
     Dosage: 15 MG, QD (DAILY)
     Route: 065
  548. AMITRIPTYLINE HYDROCHLORIDE [Suspect]
     Active Substance: AMITRIPTYLINE HYDROCHLORIDE
     Indication: Pain
     Dosage: 5 MG, QD (5 MILLIGRAM, DAILY)
     Route: 065
  549. AMITRIPTYLINE HYDROCHLORIDE [Suspect]
     Active Substance: AMITRIPTYLINE HYDROCHLORIDE
     Indication: Fibromyalgia
     Dosage: UNK, QD (50 GALLONS, DAILY)
     Route: 065
  550. AMITRIPTYLINE HYDROCHLORIDE [Suspect]
     Active Substance: AMITRIPTYLINE HYDROCHLORIDE
     Indication: Coronary artery disease
     Dosage: 50 MG, QD (50 MILLIGRAM, DAILY)
     Route: 065
  551. AMITRIPTYLINE HYDROCHLORIDE [Suspect]
     Active Substance: AMITRIPTYLINE HYDROCHLORIDE
     Indication: Duodenal ulcer
     Dosage: 650 MG, QD (650 MG, DAILY)
     Route: 065
  552. AMITRIPTYLINE HYDROCHLORIDE [Suspect]
     Active Substance: AMITRIPTYLINE HYDROCHLORIDE
     Indication: Oedema
     Route: 065
  553. AMITRIPTYLINE HYDROCHLORIDE [Suspect]
     Active Substance: AMITRIPTYLINE HYDROCHLORIDE
     Indication: Dementia
     Dosage: 60 MG, QD (60 MILLIGRAM, DAILY)
     Route: 065
  554. AMITRIPTYLINE HYDROCHLORIDE [Suspect]
     Active Substance: AMITRIPTYLINE HYDROCHLORIDE
     Indication: Angina pectoris
     Dosage: 6 MG, QD (6 MILLIGRAM, DAILY)
     Route: 061
  555. AMITRIPTYLINE HYDROCHLORIDE [Suspect]
     Active Substance: AMITRIPTYLINE HYDROCHLORIDE
     Indication: Prophylaxis
     Route: 065
  556. AMITRIPTYLINE HYDROCHLORIDE [Suspect]
     Active Substance: AMITRIPTYLINE HYDROCHLORIDE
     Indication: Radioactive iodine therapy
  557. AMITRIPTYLINE HYDROCHLORIDE [Suspect]
     Active Substance: AMITRIPTYLINE HYDROCHLORIDE
     Indication: Insomnia
  558. AMITRIPTYLINE HYDROCHLORIDE [Suspect]
     Active Substance: AMITRIPTYLINE HYDROCHLORIDE
     Indication: Arthritis
  559. AMITRIPTYLINE HYDROCHLORIDE [Suspect]
     Active Substance: AMITRIPTYLINE HYDROCHLORIDE
     Indication: Hypertension
  560. AMITRIPTYLINE HYDROCHLORIDE [Suspect]
     Active Substance: AMITRIPTYLINE HYDROCHLORIDE
     Indication: Thyroid disorder
  561. AMITRIPTYLINE HYDROCHLORIDE [Suspect]
     Active Substance: AMITRIPTYLINE HYDROCHLORIDE
     Indication: Constipation
  562. AMITRIPTYLINE HYDROCHLORIDE [Suspect]
     Active Substance: AMITRIPTYLINE HYDROCHLORIDE
     Indication: Product used for unknown indication
  563. AMITRIPTYLINE HYDROCHLORIDE [Suspect]
     Active Substance: AMITRIPTYLINE HYDROCHLORIDE
     Indication: Small intestine carcinoma
  564. LEVOFLOXACIN HEMIHYDRATE [Suspect]
     Active Substance: LEVOFLOXACIN
     Indication: Urinary tract infection
     Dosage: 200 MG, QD DAILY
     Route: 065
  565. LEVOFLOXACIN HEMIHYDRATE [Suspect]
     Active Substance: LEVOFLOXACIN
     Dosage: 250 MILLIGRAM QD, DAILY
     Route: 065
  566. MAGNESIUM ALUMINUM SILICATE [Suspect]
     Active Substance: MAGNESIUM ALUMINUM SILICATE
     Indication: Constipation
     Route: 065
  567. MAGNESIUM ALUMINUM SILICATE [Suspect]
     Active Substance: MAGNESIUM ALUMINUM SILICATE
     Dosage: 2 DOSAGE FORM, QD (1 DOSAGE FORM, BID)
     Route: 065
  568. MAGNESIUM ALUMINUM SILICATE [Suspect]
     Active Substance: MAGNESIUM ALUMINUM SILICATE
     Dosage: 4 DOSAGE FORM, QW (1 DOSAGE FORM, 2/WEEK)
     Route: 065
  569. MAGNESIUM ALUMINUM SILICATE [Suspect]
     Active Substance: MAGNESIUM ALUMINUM SILICATE
     Dosage: 1 DOSAGE FORM, QD DAILY
     Route: 065
  570. MAGNESIUM ALUMINUM SILICATE [Suspect]
     Active Substance: MAGNESIUM ALUMINUM SILICATE
     Dosage: 4 DOSAGE FORM, QD (2 DOSAGE FORM, BID)
     Route: 065
  571. MAGNESIUM ALUMINUM SILICATE [Suspect]
     Active Substance: MAGNESIUM ALUMINUM SILICATE
     Dosage: 50 DOSAGE FORM, QD DAILY
     Route: 065
  572. MAGNESIUM ALUMINUM SILICATE [Suspect]
     Active Substance: MAGNESIUM ALUMINUM SILICATE
     Dosage: 2 DOSAGE FORM, QW (2 DF, 1/WEEK)
     Route: 065
  573. MAGNESIUM ALUMINUM SILICATE [Suspect]
     Active Substance: MAGNESIUM ALUMINUM SILICATE
     Dosage: 75 MG, QD DAILY
     Route: 065
  574. MAGNESIUM ALUMINUM SILICATE [Suspect]
     Active Substance: MAGNESIUM ALUMINUM SILICATE
     Route: 065
  575. MAGNESIUM ALUMINUM SILICATE [Suspect]
     Active Substance: MAGNESIUM ALUMINUM SILICATE
     Dosage: 50 MG, QD DAILY
     Route: 065
  576. MAGNESIUM ALUMINUM SILICATE [Suspect]
     Active Substance: MAGNESIUM ALUMINUM SILICATE
     Dosage: 2 DOSAGE FORM, QD DAILY
     Route: 065
  577. MAGNESIUM ALUMINUM SILICATE [Suspect]
     Active Substance: MAGNESIUM ALUMINUM SILICATE
     Dosage: 2 DOSAGE FORM QD DAILY
     Route: 065
  578. MAGNESIUM ALUMINUM SILICATE [Suspect]
     Active Substance: MAGNESIUM ALUMINUM SILICATE
     Dosage: 2 DOSAGE FORM, QD DAILY
     Route: 065
  579. MAGNESIUM ALUMINUM SILICATE [Suspect]
     Active Substance: MAGNESIUM ALUMINUM SILICATE
     Dosage: 620 MG, Q12H
     Route: 065
  580. MAGNESIUM ALUMINUM SILICATE [Suspect]
     Active Substance: MAGNESIUM ALUMINUM SILICATE
     Dosage: 100 MG, QD
     Route: 065
  581. MAGNESIUM ALUMINUM SILICATE [Suspect]
     Active Substance: MAGNESIUM ALUMINUM SILICATE
     Dosage: 10 MG, QD
     Route: 065
  582. MAGNESIUM ALUMINUM SILICATE [Suspect]
     Active Substance: MAGNESIUM ALUMINUM SILICATE
     Route: 065
  583. MAGNESIUM ALUMINUM SILICATE [Suspect]
     Active Substance: MAGNESIUM ALUMINUM SILICATE
     Dosage: 1 DOSAGE FORM, Q12H
     Route: 065
  584. DIPYRIDAMOLE [Suspect]
     Active Substance: DIPYRIDAMOLE
     Indication: Product used for unknown indication
     Route: 065
  585. DIPYRIDAMOLE [Suspect]
     Active Substance: DIPYRIDAMOLE
     Dosage: 4 DOSAGE FORM, QD (2 DOSAGE FORM, BID)
     Route: 065
  586. DIPYRIDAMOLE [Suspect]
     Active Substance: DIPYRIDAMOLE
     Dosage: 662 MG, QD DAILY
     Route: 065
  587. DIPYRIDAMOLE [Suspect]
     Active Substance: DIPYRIDAMOLE
     Dosage: 1244 MG, QD DAILY
     Route: 065
  588. DIPYRIDAMOLE [Suspect]
     Active Substance: DIPYRIDAMOLE
     Dosage: 2 DOSAGE FORM, QD (2DF DAILY)
     Route: 065
  589. DIPYRIDAMOLE [Suspect]
     Active Substance: DIPYRIDAMOLE
     Dosage: 622 MG QD(311 MG, 2 EVERY 1 DAYS)
     Route: 065
  590. DIPYRIDAMOLE [Suspect]
     Active Substance: DIPYRIDAMOLE
     Dosage: 1240 MG, QD DAILY
     Route: 065
  591. DIPYRIDAMOLE [Suspect]
     Active Substance: DIPYRIDAMOLE
     Dosage: 10 MG, QD DAILY
     Route: 065
  592. DIPYRIDAMOLE [Suspect]
     Active Substance: DIPYRIDAMOLE
     Dosage: 2 DOSAGE FORM QD (1 DF, BID)
     Route: 065
  593. DIPYRIDAMOLE [Suspect]
     Active Substance: DIPYRIDAMOLE
     Dosage: UNK, BID
     Route: 065
  594. DIPYRIDAMOLE [Suspect]
     Active Substance: DIPYRIDAMOLE
     Dosage: UNK, QD DAILY
     Route: 065
  595. DIPYRIDAMOLE [Suspect]
     Active Substance: DIPYRIDAMOLE
     Dosage: 2488 MG QD (1244 MILLIGRAM, BID(1 EVERY 12HOURS)2)
     Route: 065
  596. DIPYRIDAMOLE [Suspect]
     Active Substance: DIPYRIDAMOLE
     Dosage: 622 MG, Q12H
     Route: 065
  597. DIPYRIDAMOLE [Suspect]
     Active Substance: DIPYRIDAMOLE
     Route: 065
  598. ACEBUTOLOL HYDROCHLORIDE [Suspect]
     Active Substance: ACEBUTOLOL HYDROCHLORIDE
     Indication: Coronary artery disease
     Dosage: 200 MG, BID
     Route: 065
  599. ACEBUTOLOL HYDROCHLORIDE [Suspect]
     Active Substance: ACEBUTOLOL HYDROCHLORIDE
     Indication: Hypertension
     Dosage: 100 MG, BID
     Route: 065
  600. ACEBUTOLOL HYDROCHLORIDE [Suspect]
     Active Substance: ACEBUTOLOL HYDROCHLORIDE
     Indication: Angina pectoris
     Dosage: 100 MG, QD (MORNING)
     Route: 065
  601. ACEBUTOLOL HYDROCHLORIDE [Suspect]
     Active Substance: ACEBUTOLOL HYDROCHLORIDE
     Indication: Chest pain
     Dosage: 50 MG, QD (MORNING)
     Route: 065
  602. ACEBUTOLOL HYDROCHLORIDE [Suspect]
     Active Substance: ACEBUTOLOL HYDROCHLORIDE
     Indication: Constipation
     Dosage: 400 MG, QD
     Route: 065
  603. ACEBUTOLOL HYDROCHLORIDE [Suspect]
     Active Substance: ACEBUTOLOL HYDROCHLORIDE
     Indication: Chronic obstructive pulmonary disease
     Dosage: 1000 MG, QD (200 MG, 5X/WEEK )
     Route: 065
  604. ACEBUTOLOL HYDROCHLORIDE [Suspect]
     Active Substance: ACEBUTOLOL HYDROCHLORIDE
     Dosage: 500 MG, QD
     Route: 065
  605. ACEBUTOLOL HYDROCHLORIDE [Suspect]
     Active Substance: ACEBUTOLOL HYDROCHLORIDE
     Dosage: 400 MG, QD
     Route: 065
  606. ACEBUTOLOL HYDROCHLORIDE [Suspect]
     Active Substance: ACEBUTOLOL HYDROCHLORIDE
     Dosage: 400 MG, QD
     Route: 065
  607. ACEBUTOLOL HYDROCHLORIDE [Suspect]
     Active Substance: ACEBUTOLOL HYDROCHLORIDE
     Dosage: 200 MG, QD 5X/WEEK
     Route: 065
  608. ACEBUTOLOL HYDROCHLORIDE [Suspect]
     Active Substance: ACEBUTOLOL HYDROCHLORIDE
     Dosage: 200 MG, QD 5X/WEEK
     Route: 065
  609. ACEBUTOLOL HYDROCHLORIDE [Suspect]
     Active Substance: ACEBUTOLOL HYDROCHLORIDE
     Dosage: 1000 MG, QD (200 MG, 5/DAY)
     Route: 065
  610. ACEBUTOLOL HYDROCHLORIDE [Suspect]
     Active Substance: ACEBUTOLOL HYDROCHLORIDE
     Dosage: 200 MG, QD 200 MG, 5/DAY
     Route: 065
  611. ACEBUTOLOL HYDROCHLORIDE [Suspect]
     Active Substance: ACEBUTOLOL HYDROCHLORIDE
     Dosage: 1000 MG, QD (100 MG, BID )
     Route: 065
  612. ACEBUTOLOL HYDROCHLORIDE [Suspect]
     Active Substance: ACEBUTOLOL HYDROCHLORIDE
     Dosage: 800 MG, QD 200 MG, BI
     Route: 065
  613. ACEBUTOLOL HYDROCHLORIDE [Suspect]
     Active Substance: ACEBUTOLOL HYDROCHLORIDE
     Dosage: 400 MG, QD (200 MG QD)
     Route: 065
  614. ACEBUTOLOL HYDROCHLORIDE [Suspect]
     Active Substance: ACEBUTOLOL HYDROCHLORIDE
     Dosage: 100 MG, QD 100 MG, UNK (EVERY 4.8 HOURS)
     Route: 065
  615. ACEBUTOLOL HYDROCHLORIDE [Suspect]
     Active Substance: ACEBUTOLOL HYDROCHLORIDE
     Dosage: 200 MG, QD
     Route: 065
  616. ACEBUTOLOL HYDROCHLORIDE [Suspect]
     Active Substance: ACEBUTOLOL HYDROCHLORIDE
     Dosage: 100 MG, QD
     Route: 065
  617. ACEBUTOLOL HYDROCHLORIDE [Suspect]
     Active Substance: ACEBUTOLOL HYDROCHLORIDE
     Dosage: 200 MG, Q12H
     Route: 065
  618. ACEBUTOLOL HYDROCHLORIDE [Suspect]
     Active Substance: ACEBUTOLOL HYDROCHLORIDE
     Dosage: 200 MG, Q12H 2 EVERY 1 WEEK
     Route: 065
  619. ACEBUTOLOL HYDROCHLORIDE [Suspect]
     Active Substance: ACEBUTOLOL HYDROCHLORIDE
     Dosage: 50 MG, Q12H 2 EVERY 2 DAYS
     Route: 065
  620. ACEBUTOLOL HYDROCHLORIDE [Suspect]
     Active Substance: ACEBUTOLOL HYDROCHLORIDE
     Dosage: 50 MG, Q12H 2 EVERY 2 DAYS
     Route: 065
  621. ACEBUTOLOL HYDROCHLORIDE [Suspect]
     Active Substance: ACEBUTOLOL HYDROCHLORIDE
     Dosage: 800 MG, Q12H 50 MG, 2 EVERY 2 DAYS
     Route: 065
  622. ACEBUTOLOL HYDROCHLORIDE [Suspect]
     Active Substance: ACEBUTOLOL HYDROCHLORIDE
     Dosage: 800 MG, Q12H 50 MG, 2 EVERY 2 DAYS
     Route: 065
  623. ACEBUTOLOL HYDROCHLORIDE [Suspect]
     Active Substance: ACEBUTOLOL HYDROCHLORIDE
     Dosage: 200 MG, Q12H 200 MG,2 EVERY 1 WEEK
     Route: 065
  624. ACETAMINOPHEN [Suspect]
     Active Substance: ACETAMINOPHEN
     Indication: Fibromyalgia
     Route: 065
  625. ACETAMINOPHEN [Suspect]
     Active Substance: ACETAMINOPHEN
     Indication: Pain
     Route: 048
  626. ACETAMINOPHEN [Suspect]
     Active Substance: ACETAMINOPHEN
     Indication: Radioactive iodine therapy
     Route: 065
  627. ACETAMINOPHEN [Suspect]
     Active Substance: ACETAMINOPHEN
     Indication: Angina pectoris
     Dosage: 18 MG, QD
     Route: 065
  628. ACETAMINOPHEN [Suspect]
     Active Substance: ACETAMINOPHEN
     Indication: Hypertension
     Dosage: 18 UG, QD
     Route: 065
  629. ACETAMINOPHEN [Suspect]
     Active Substance: ACETAMINOPHEN
     Indication: Coronary artery disease
     Dosage: 18 UG, QD
     Route: 065
  630. ACETAMINOPHEN [Suspect]
     Active Substance: ACETAMINOPHEN
     Indication: Chronic obstructive pulmonary disease
     Dosage: UNK, QD
     Route: 065
  631. ACETAMINOPHEN [Suspect]
     Active Substance: ACETAMINOPHEN
     Indication: Chest pain
     Dosage: 1 DOSAGE FORM, QD
     Route: 065
  632. ACETAMINOPHEN [Suspect]
     Active Substance: ACETAMINOPHEN
     Indication: Cerebrovascular accident
     Route: 065
  633. ACETAMINOPHEN [Suspect]
     Active Substance: ACETAMINOPHEN
     Indication: Product used for unknown indication
     Route: 065
  634. ACETAMINOPHEN [Suspect]
     Active Substance: ACETAMINOPHEN
     Dosage: 18 UG, QD
     Route: 065
  635. ACETAMINOPHEN [Suspect]
     Active Substance: ACETAMINOPHEN
     Route: 065
  636. ACETAMINOPHEN [Suspect]
     Active Substance: ACETAMINOPHEN
     Route: 065
  637. ACETAMINOPHEN [Suspect]
     Active Substance: ACETAMINOPHEN
     Route: 065
  638. ACETAMINOPHEN [Suspect]
     Active Substance: ACETAMINOPHEN
     Dosage: 650 MG, QD
     Route: 065
  639. ACETAMINOPHEN [Suspect]
     Active Substance: ACETAMINOPHEN
     Dosage: 50 MG, QD
     Route: 065
  640. ACETAMINOPHEN [Suspect]
     Active Substance: ACETAMINOPHEN
     Route: 065
  641. ACETAMINOPHEN [Suspect]
     Active Substance: ACETAMINOPHEN
     Dosage: 650 MG, Q6H
     Route: 065
  642. SPIRIVA [Suspect]
     Active Substance: TIOTROPIUM BROMIDE MONOHYDRATE
     Indication: Chronic obstructive pulmonary disease
     Dosage: 18 UG, QD
     Route: 048
  643. SPIRIVA [Suspect]
     Active Substance: TIOTROPIUM BROMIDE MONOHYDRATE
     Indication: Asthma
     Dosage: 1 DOSAGE FORM, QD
     Route: 065
  644. SPIRIVA [Suspect]
     Active Substance: TIOTROPIUM BROMIDE MONOHYDRATE
     Indication: Constipation
     Dosage: 18 UG, QD
     Route: 048
  645. SPIRIVA [Suspect]
     Active Substance: TIOTROPIUM BROMIDE MONOHYDRATE
     Indication: Product used for unknown indication
     Dosage: 18 UG, QD
     Route: 048
  646. SPIRIVA [Suspect]
     Active Substance: TIOTROPIUM BROMIDE MONOHYDRATE
     Dosage: 18 UG, QD
     Route: 048
  647. SPIRIVA [Suspect]
     Active Substance: TIOTROPIUM BROMIDE MONOHYDRATE
     Dosage: 18 UG, QD
     Route: 048
  648. SPIRIVA [Suspect]
     Active Substance: TIOTROPIUM BROMIDE MONOHYDRATE
     Dosage: UNK, QD 18000 UG/H UNK
     Route: 065
  649. SPIRIVA [Suspect]
     Active Substance: TIOTROPIUM BROMIDE MONOHYDRATE
     Route: 048
  650. SPIRIVA [Suspect]
     Active Substance: TIOTROPIUM BROMIDE MONOHYDRATE
     Route: 065
  651. SPIRIVA [Suspect]
     Active Substance: TIOTROPIUM BROMIDE MONOHYDRATE
     Dosage: 18000 UG, QH
     Route: 065
  652. SPIRIVA [Suspect]
     Active Substance: TIOTROPIUM BROMIDE MONOHYDRATE
     Dosage: 18 UG, QD
     Route: 048
  653. MAGNESIUM HYDROXIDE [Suspect]
     Active Substance: MAGNESIUM HYDROXIDE
     Indication: Constipation
     Route: 065
  654. MAGNESIUM HYDROXIDE [Suspect]
     Active Substance: MAGNESIUM HYDROXIDE
     Indication: Product used for unknown indication
     Dosage: 622 MG, Q12H
     Route: 065
  655. MAGNESIUM HYDROXIDE [Suspect]
     Active Substance: MAGNESIUM HYDROXIDE
     Dosage: 1244 MG, Q12H (622 MG, Q12H)
     Route: 065
  656. MAGNESIUM HYDROXIDE [Suspect]
     Active Substance: MAGNESIUM HYDROXIDE
     Route: 065
  657. MAGNESIUM HYDROXIDE [Suspect]
     Active Substance: MAGNESIUM HYDROXIDE
     Dosage: 622 MG, QD
     Route: 065
  658. MAGNESIUM HYDROXIDE [Suspect]
     Active Substance: MAGNESIUM HYDROXIDE
     Dosage: 4 DOSAGE FORM, QD (1 DF, BID )
     Route: 065
  659. MAGNESIUM HYDROXIDE [Suspect]
     Active Substance: MAGNESIUM HYDROXIDE
     Dosage: 2 DOSAGE FORM, QD
     Route: 065
  660. MAGNESIUM HYDROXIDE [Suspect]
     Active Substance: MAGNESIUM HYDROXIDE
     Dosage: 1 DOSAGE FORM, QD
     Route: 065
  661. MAGNESIUM HYDROXIDE [Suspect]
     Active Substance: MAGNESIUM HYDROXIDE
     Dosage: 1244 MG, Q12H (622 MG)
     Route: 065
  662. MAGNESIUM HYDROXIDE [Suspect]
     Active Substance: MAGNESIUM HYDROXIDE
     Route: 065
  663. MAGNESIUM HYDROXIDE [Suspect]
     Active Substance: MAGNESIUM HYDROXIDE
     Route: 065
  664. MAGNESIUM HYDROXIDE [Suspect]
     Active Substance: MAGNESIUM HYDROXIDE
     Dosage: UNK, BID
     Route: 065
  665. MAGNESIUM HYDROXIDE [Suspect]
     Active Substance: MAGNESIUM HYDROXIDE
     Route: 065
  666. MAGNESIUM HYDROXIDE [Suspect]
     Active Substance: MAGNESIUM HYDROXIDE
     Dosage: 1240 MG, QD
     Route: 065
  667. MAGNESIUM HYDROXIDE [Suspect]
     Active Substance: MAGNESIUM HYDROXIDE
     Dosage: 10 MG, QD
     Route: 065
  668. MAGNESIUM HYDROXIDE [Suspect]
     Active Substance: MAGNESIUM HYDROXIDE
     Dosage: 8 DOSAGE FORM, QD (2 DOSAGE FORM, BID)
     Route: 065
  669. CYCLOBENZAPRINE [Suspect]
     Active Substance: CYCLOBENZAPRINE
     Indication: Pain
     Dosage: 10 MG, QD
     Route: 065
  670. CYCLOBENZAPRINE [Suspect]
     Active Substance: CYCLOBENZAPRINE
     Indication: Fibromyalgia
     Dosage: 1.87 MG, QD
     Route: 065
  671. CYCLOBENZAPRINE [Suspect]
     Active Substance: CYCLOBENZAPRINE
     Indication: Seizure prophylaxis
     Route: 058
  672. CYCLOBENZAPRINE [Suspect]
     Active Substance: CYCLOBENZAPRINE
     Indication: Seizure
     Dosage: 100 MG, Q12H
     Route: 065
  673. CYCLOBENZAPRINE [Suspect]
     Active Substance: CYCLOBENZAPRINE
     Indication: Product used for unknown indication
     Dosage: 5 MG, Q8H
     Route: 065
  674. CYCLOBENZAPRINE [Suspect]
     Active Substance: CYCLOBENZAPRINE
     Indication: Product used for unknown indication
     Dosage: 15 MG, Q8H
     Route: 065
  675. CYCLOBENZAPRINE [Suspect]
     Active Substance: CYCLOBENZAPRINE
     Dosage: 5 MG, Q12H
     Route: 065
  676. CYCLOBENZAPRINE [Suspect]
     Active Substance: CYCLOBENZAPRINE
     Dosage: 45 MG, QD
     Route: 065
  677. CYCLOBENZAPRINE [Suspect]
     Active Substance: CYCLOBENZAPRINE
     Route: 065
  678. CYCLOBENZAPRINE [Suspect]
     Active Substance: CYCLOBENZAPRINE
     Route: 065
  679. CYCLOBENZAPRINE [Suspect]
     Active Substance: CYCLOBENZAPRINE
     Route: 065
  680. CYCLOBENZAPRINE [Suspect]
     Active Substance: CYCLOBENZAPRINE
     Dosage: 5 MG, QD
     Route: 065
  681. CYCLOBENZAPRINE [Suspect]
     Active Substance: CYCLOBENZAPRINE
     Dosage: 200 MG, Q12H
     Route: 065
  682. CYCLOBENZAPRINE [Suspect]
     Active Substance: CYCLOBENZAPRINE
     Dosage: 2 MG, QD
     Route: 065
  683. CYCLOBENZAPRINE [Suspect]
     Active Substance: CYCLOBENZAPRINE
     Dosage: 5 MG, Q8H
     Route: 065
  684. CYCLOBENZAPRINE [Suspect]
     Active Substance: CYCLOBENZAPRINE
     Route: 065
  685. CYCLOBENZAPRINE [Suspect]
     Active Substance: CYCLOBENZAPRINE
     Dosage: 1.87 MG, TID
     Route: 065
  686. CYCLOBENZAPRINE [Suspect]
     Active Substance: CYCLOBENZAPRINE
     Route: 065
  687. CYCLOBENZAPRINE [Suspect]
     Active Substance: CYCLOBENZAPRINE
     Dosage: 15 MG, QD
     Route: 065
  688. CYCLOBENZAPRINE [Suspect]
     Active Substance: CYCLOBENZAPRINE
     Dosage: 200 MG, QD
     Route: 065
  689. CYCLOBENZAPRINE [Suspect]
     Active Substance: CYCLOBENZAPRINE
     Dosage: 1.87 MG, QD
     Route: 065
  690. CYCLOBENZAPRINE [Suspect]
     Active Substance: CYCLOBENZAPRINE
     Dosage: 1.87 MG, QD
     Route: 065
  691. CYCLOBENZAPRINE [Suspect]
     Active Substance: CYCLOBENZAPRINE
     Route: 065
  692. CYCLOBENZAPRINE [Suspect]
     Active Substance: CYCLOBENZAPRINE
     Dosage: 500 MG, Q8H
     Route: 065
  693. CYCLOBENZAPRINE [Suspect]
     Active Substance: CYCLOBENZAPRINE
     Dosage: 1 MG, QD
     Route: 065
  694. CYCLOBENZAPRINE [Suspect]
     Active Substance: CYCLOBENZAPRINE
     Dosage: 15 UG, Q8H
     Route: 065
  695. CYCLOBENZAPRINE [Suspect]
     Active Substance: CYCLOBENZAPRINE
     Route: 065
  696. CYCLOBENZAPRINE [Suspect]
     Active Substance: CYCLOBENZAPRINE
     Dosage: 100 UG, Q12H
     Route: 065
  697. CYCLOBENZAPRINE [Suspect]
     Active Substance: CYCLOBENZAPRINE
     Dosage: 1.87 UG, QD
     Route: 065
  698. CYCLOBENZAPRINE [Suspect]
     Active Substance: CYCLOBENZAPRINE
     Dosage: 5 UG, Q12H
     Route: 065
  699. CYCLOBENZAPRINE [Suspect]
     Active Substance: CYCLOBENZAPRINE
     Dosage: 360 UG, QD
     Route: 065
  700. CYCLOBENZAPRINE [Suspect]
     Active Substance: CYCLOBENZAPRINE
     Dosage: 200 UG, Q12H
     Route: 065
  701. CYCLOBENZAPRINE [Suspect]
     Active Substance: CYCLOBENZAPRINE
     Route: 065
  702. CYCLOBENZAPRINE [Suspect]
     Active Substance: CYCLOBENZAPRINE
     Dosage: 15 MG, QD
     Route: 065
  703. CYCLOBENZAPRINE [Suspect]
     Active Substance: CYCLOBENZAPRINE
     Dosage: 15 MG, QD
     Route: 048
  704. CYCLOBENZAPRINE [Suspect]
     Active Substance: CYCLOBENZAPRINE
     Dosage: 15 MG, QD
     Route: 048
  705. CYCLOBENZAPRINE [Suspect]
     Active Substance: CYCLOBENZAPRINE
     Route: 065
  706. CYCLOBENZAPRINE [Suspect]
     Active Substance: CYCLOBENZAPRINE
     Dosage: 15 ML, QD
     Route: 065
  707. CYCLOBENZAPRINE [Suspect]
     Active Substance: CYCLOBENZAPRINE
     Dosage: 15 ML, QD
     Route: 048
  708. CYCLOBENZAPRINE [Suspect]
     Active Substance: CYCLOBENZAPRINE
     Route: 048
  709. CYCLOBENZAPRINE [Suspect]
     Active Substance: CYCLOBENZAPRINE
     Dosage: 2 DOSAGE FORM, QD
     Route: 065
  710. CYCLOBENZAPRINE [Suspect]
     Active Substance: CYCLOBENZAPRINE
     Dosage: 800 MG, QD
     Route: 065
  711. CYCLOBENZAPRINE [Suspect]
     Active Substance: CYCLOBENZAPRINE
     Dosage: 200 MG, Q6H 4 EVERY 1 DAY
     Route: 065
  712. CYCLOBENZAPRINE [Suspect]
     Active Substance: CYCLOBENZAPRINE
     Dosage: 40 MG, QD
     Route: 048
  713. CYCLOBENZAPRINE [Suspect]
     Active Substance: CYCLOBENZAPRINE
     Dosage: 400 MG, QD
     Route: 065
  714. CYCLOBENZAPRINE [Suspect]
     Active Substance: CYCLOBENZAPRINE
     Dosage: 20 MG, QD
     Route: 065
  715. CYCLOBENZAPRINE [Suspect]
     Active Substance: CYCLOBENZAPRINE
     Dosage: 20 MG, Q12H
     Route: 065
  716. CYCLOBENZAPRINE [Suspect]
     Active Substance: CYCLOBENZAPRINE
     Dosage: 20 MG, QD
     Route: 065
  717. CYCLOBENZAPRINE [Suspect]
     Active Substance: CYCLOBENZAPRINE
     Dosage: 40 MG, QD
     Route: 065
  718. CYCLOBENZAPRINE [Suspect]
     Active Substance: CYCLOBENZAPRINE
     Dosage: 40 MG, QD
     Route: 065
  719. PERSANTINE [Suspect]
     Active Substance: DIPYRIDAMOLE
     Indication: Cerebrovascular accident
     Route: 065
  720. PERSANTINE [Suspect]
     Active Substance: DIPYRIDAMOLE
     Dosage: 2 DOSAGE FORM, BID
     Route: 065
  721. PERSANTINE [Suspect]
     Active Substance: DIPYRIDAMOLE
     Dosage: 622 MG, DAILY
     Route: 065
  722. PERSANTINE [Suspect]
     Active Substance: DIPYRIDAMOLE
     Dosage: 1244 MG, DAILY
     Route: 065
  723. PERSANTINE [Suspect]
     Active Substance: DIPYRIDAMOLE
     Route: 065
  724. PERSANTINE [Suspect]
     Active Substance: DIPYRIDAMOLE
     Dosage: 311 MG, 2 EVERY 1 DAYS
     Route: 065
  725. PERSANTINE [Suspect]
     Active Substance: DIPYRIDAMOLE
     Dosage: 1240 MILLIGRAM, DAILY
     Route: 065
  726. PERSANTINE [Suspect]
     Active Substance: DIPYRIDAMOLE
     Dosage: 10 MILLIGRAM, DAILY
     Route: 065
  727. PERSANTINE [Suspect]
     Active Substance: DIPYRIDAMOLE
     Dosage: 2 DOSAGE FORM, QD (1 DF, Q12H)
     Route: 065
  728. PERSANTINE [Suspect]
     Active Substance: DIPYRIDAMOLE
     Route: 065
  729. PERSANTINE [Suspect]
     Active Substance: DIPYRIDAMOLE
     Route: 065
  730. PERSANTINE [Suspect]
     Active Substance: DIPYRIDAMOLE
     Dosage: 1244 MILLIGRAM, BID(1 EVERY 12HOURS)2
     Route: 065
  731. PERSANTINE [Suspect]
     Active Substance: DIPYRIDAMOLE
     Dosage: 622 MG, Q12H
     Route: 065
  732. PERSANTINE [Suspect]
     Active Substance: DIPYRIDAMOLE
     Route: 065
  733. PERSANTINE [Suspect]
     Active Substance: DIPYRIDAMOLE
     Dosage: 20 MG, QD
     Route: 065
  734. PERSANTINE [Suspect]
     Active Substance: DIPYRIDAMOLE
     Dosage: 1 DOSAGE FORM, QD
     Route: 065
  735. PERSANTINE [Suspect]
     Active Substance: DIPYRIDAMOLE
     Dosage: 2 DOSAGE FORM, QD (1 DOSAGE FORM, BID)
     Route: 065
  736. PERSANTINE [Suspect]
     Active Substance: DIPYRIDAMOLE
     Dosage: 2 DOSAGE FORM, QD
     Route: 065
  737. QUINAPRIL HYDROCHLORIDE [Suspect]
     Active Substance: QUINAPRIL HYDROCHLORIDE
     Indication: Coronary artery disease
     Dosage: 40 MG, QD
     Route: 048
  738. QUINAPRIL HYDROCHLORIDE [Suspect]
     Active Substance: QUINAPRIL HYDROCHLORIDE
     Indication: Hypertension
     Dosage: 20 MG, Q12H
     Route: 048
  739. QUINAPRIL HYDROCHLORIDE [Suspect]
     Active Substance: QUINAPRIL HYDROCHLORIDE
     Route: 048
  740. QUINAPRIL HYDROCHLORIDE [Suspect]
     Active Substance: QUINAPRIL HYDROCHLORIDE
     Route: 048
  741. QUINAPRIL HYDROCHLORIDE [Suspect]
     Active Substance: QUINAPRIL HYDROCHLORIDE
     Route: 048
  742. QUINAPRIL HYDROCHLORIDE [Suspect]
     Active Substance: QUINAPRIL HYDROCHLORIDE
     Dosage: 10 MG, QD
     Route: 065
  743. QUINAPRIL HYDROCHLORIDE [Suspect]
     Active Substance: QUINAPRIL HYDROCHLORIDE
     Dosage: 10 MG, QD
     Route: 065
  744. QUINAPRIL HYDROCHLORIDE [Suspect]
     Active Substance: QUINAPRIL HYDROCHLORIDE
     Dosage: 100 MG, QD
     Route: 065
  745. QUINAPRIL HYDROCHLORIDE [Suspect]
     Active Substance: QUINAPRIL HYDROCHLORIDE
     Dosage: 1 DOSAGE FORM, QD
     Route: 065
  746. QUINAPRIL HYDROCHLORIDE [Suspect]
     Active Substance: QUINAPRIL HYDROCHLORIDE
     Dosage: UNK, QD
     Route: 065
  747. QUINAPRIL HYDROCHLORIDE [Suspect]
     Active Substance: QUINAPRIL HYDROCHLORIDE
     Dosage: 2 DOSAGE FORM, QD
     Route: 065
  748. QUINAPRIL HYDROCHLORIDE [Suspect]
     Active Substance: QUINAPRIL HYDROCHLORIDE
     Route: 065
  749. QUINAPRIL HYDROCHLORIDE [Suspect]
     Active Substance: QUINAPRIL HYDROCHLORIDE
     Route: 065
  750. QUINAPRIL HYDROCHLORIDE [Suspect]
     Active Substance: QUINAPRIL HYDROCHLORIDE
     Route: 065
  751. QUINAPRIL HYDROCHLORIDE [Suspect]
     Active Substance: QUINAPRIL HYDROCHLORIDE
     Route: 065
  752. QUINAPRIL HYDROCHLORIDE [Suspect]
     Active Substance: QUINAPRIL HYDROCHLORIDE
     Route: 065
  753. QUINAPRIL HYDROCHLORIDE [Suspect]
     Active Substance: QUINAPRIL HYDROCHLORIDE
     Route: 065
  754. QUINAPRIL HYDROCHLORIDE [Suspect]
     Active Substance: QUINAPRIL HYDROCHLORIDE
     Route: 065
  755. LEVOTHYROXINE SODIUM [Suspect]
     Active Substance: LEVOTHYROXINE SODIUM
     Indication: Post procedural hypothyroidism
     Dosage: 0.088 MG, QD (ABOUT 10 YEARS)
     Route: 048
  756. LEVOTHYROXINE SODIUM [Suspect]
     Active Substance: LEVOTHYROXINE SODIUM
     Indication: Thyroid disorder
     Route: 065
  757. LEVOTHYROXINE SODIUM [Suspect]
     Active Substance: LEVOTHYROXINE SODIUM
     Indication: Radioactive iodine therapy
     Dosage: 0.8 MG, QD
     Route: 065
  758. LEVOTHYROXINE SODIUM [Suspect]
     Active Substance: LEVOTHYROXINE SODIUM
     Indication: Constipation
     Dosage: 0.09 MG, QD
     Route: 065
  759. LEVOTHYROXINE SODIUM [Suspect]
     Active Substance: LEVOTHYROXINE SODIUM
     Indication: Urinary tract infection
     Dosage: UNK, QD
     Route: 065
  760. LEVOTHYROXINE SODIUM [Suspect]
     Active Substance: LEVOTHYROXINE SODIUM
     Dosage: 1244 MG, QD (622 MG,1 EVERY 12 HOUR)
     Route: 065
  761. LEVOTHYROXINE SODIUM [Suspect]
     Active Substance: LEVOTHYROXINE SODIUM
     Dosage: 0.09 MG, QD (0.088 MG, DAILY)
     Route: 065
  762. LEVOTHYROXINE SODIUM [Suspect]
     Active Substance: LEVOTHYROXINE SODIUM
     Dosage: 0.09 MG, QD (0.088 MG, DAILY)
     Route: 065
  763. LEVOTHYROXINE SODIUM [Suspect]
     Active Substance: LEVOTHYROXINE SODIUM
     Dosage: 0.89 MG, QD (0.088 MG, DAILY)
     Route: 065
  764. LEVOTHYROXINE SODIUM [Suspect]
     Active Substance: LEVOTHYROXINE SODIUM
     Dosage: 0.89 MG, QD (0.088 MG, DAILY)
     Route: 065
  765. LEVOTHYROXINE SODIUM [Suspect]
     Active Substance: LEVOTHYROXINE SODIUM
     Dosage: 88 MG, QD
     Route: 065
  766. LEVOTHYROXINE SODIUM [Suspect]
     Active Substance: LEVOTHYROXINE SODIUM
     Dosage: 0.9 MG, QD
     Route: 065
  767. LEVOTHYROXINE SODIUM [Suspect]
     Active Substance: LEVOTHYROXINE SODIUM
     Dosage: 0.09 MG, QD
     Route: 048
  768. ZINC [Suspect]
     Active Substance: ZINC
     Indication: Product used for unknown indication
     Dosage: 200 MG, QD (100MG BID)
     Route: 065
  769. ZINC [Suspect]
     Active Substance: ZINC
     Route: 065
  770. ZINC [Suspect]
     Active Substance: ZINC
     Dosage: 200 MG, Q12H
     Route: 065
  771. ZINC [Suspect]
     Active Substance: ZINC
     Route: 065
  772. ZINC [Suspect]
     Active Substance: ZINC
     Dosage: 400 MG QD(200 MG, BID(400 MG,QD))
     Route: 065
  773. ZINC [Suspect]
     Active Substance: ZINC
     Dosage: 400 MG, QD
     Route: 065
  774. ZINC [Suspect]
     Active Substance: ZINC
     Route: 065
  775. ZINC [Suspect]
     Active Substance: ZINC
     Dosage: UNK, QD (2 UNK, QD)
     Route: 065
  776. ZINC [Suspect]
     Active Substance: ZINC
     Route: 065
  777. NITROGLYCERIN [Suspect]
     Active Substance: NITROGLYCERIN
     Indication: Coronary artery disease
     Route: 062
  778. NITROGLYCERIN [Suspect]
     Active Substance: NITROGLYCERIN
     Indication: Angina pectoris
     Dosage: 0.1 DOSAGE FORM, QD (TOPICAL)
     Route: 050
  779. NITROGLYCERIN [Suspect]
     Active Substance: NITROGLYCERIN
     Indication: Chest pain
     Route: 061
  780. NITROGLYCERIN [Suspect]
     Active Substance: NITROGLYCERIN
     Indication: Hypertension
     Route: 061
  781. NITROGLYCERIN [Suspect]
     Active Substance: NITROGLYCERIN
     Route: 065
  782. NITROGLYCERIN [Suspect]
     Active Substance: NITROGLYCERIN
     Route: 065
  783. NITROGLYCERIN [Suspect]
     Active Substance: NITROGLYCERIN
     Route: 061
  784. MORPHINE SULFATE [Suspect]
     Active Substance: MORPHINE SULFATE
     Indication: Pain
     Dosage: 10 MG, QD
     Route: 065
  785. MORPHINE SULFATE [Suspect]
     Active Substance: MORPHINE SULFATE
     Indication: Fibromyalgia
     Dosage: 100 MG, QD
     Route: 065
  786. MORPHINE SULFATE [Suspect]
     Active Substance: MORPHINE SULFATE
     Indication: Chest pain
     Route: 065
  787. MORPHINE SULFATE [Suspect]
     Active Substance: MORPHINE SULFATE
     Indication: Dyspnoea
     Dosage: 2 DOSAGE FORM, QD
     Route: 065
  788. MORPHINE SULFATE [Suspect]
     Active Substance: MORPHINE SULFATE
     Dosage: 1 DOSAGE FORM, QD
     Route: 065
  789. MORPHINE SULFATE [Suspect]
     Active Substance: MORPHINE SULFATE
     Dosage: 10 MG, QD
     Route: 065
  790. MORPHINE SULFATE [Suspect]
     Active Substance: MORPHINE SULFATE
     Dosage: UNK, QD
     Route: 065
  791. MORPHINE SULFATE [Suspect]
     Active Substance: MORPHINE SULFATE
     Dosage: 10 MG, QD
     Route: 065
  792. MORPHINE SULFATE [Suspect]
     Active Substance: MORPHINE SULFATE
     Route: 065
  793. MORPHINE SULFATE [Suspect]
     Active Substance: MORPHINE SULFATE
     Route: 065
  794. MORPHINE SULFATE [Suspect]
     Active Substance: MORPHINE SULFATE
     Route: 065
  795. MORPHINE SULFATE [Suspect]
     Active Substance: MORPHINE SULFATE
     Route: 065
  796. MORPHINE SULFATE [Suspect]
     Active Substance: MORPHINE SULFATE
     Route: 065
  797. MORPHINE SULFATE [Suspect]
     Active Substance: MORPHINE SULFATE
     Route: 065
  798. MORPHINE SULFATE [Suspect]
     Active Substance: MORPHINE SULFATE
     Dosage: 1 DOSAGE FORM, QD
     Route: 065
  799. MORPHINE SULFATE [Suspect]
     Active Substance: MORPHINE SULFATE
     Route: 065
  800. MORPHINE SULFATE [Suspect]
     Active Substance: MORPHINE SULFATE
     Route: 065
  801. MORPHINE SULFATE [Suspect]
     Active Substance: MORPHINE SULFATE
     Route: 065
  802. MORPHINE SULFATE [Suspect]
     Active Substance: MORPHINE SULFATE
     Route: 065
  803. MORPHINE SULFATE [Suspect]
     Active Substance: MORPHINE SULFATE
     Route: 065
  804. GALANTAMINE HYDROBROMIDE [Suspect]
     Active Substance: GALANTAMINE HYDROBROMIDE
     Indication: Product used for unknown indication
     Route: 065
  805. CRANBERRY [Suspect]
     Active Substance: CRANBERRY
     Indication: Product used for unknown indication
     Route: 065
  806. CRANBERRY [Suspect]
     Active Substance: CRANBERRY
     Route: 065
  807. CRANBERRY [Suspect]
     Active Substance: CRANBERRY
     Dosage: 1000 MG, QD (500 MG, BID )
     Route: 065
  808. CRANBERRY [Suspect]
     Active Substance: CRANBERRY
     Dosage: 500 MG, QD DAILY
     Route: 065
  809. GLUCOSAMINE [Suspect]
     Active Substance: GLUCOSAMINE
     Indication: Arthritis
     Dosage: 10 MG, QD DAILY
     Route: 030
  810. GLUCOSAMINE [Suspect]
     Active Substance: GLUCOSAMINE
     Indication: Pain
     Dosage: 20 MG, QD DAILY
     Route: 030
  811. GLUCOSAMINE [Suspect]
     Active Substance: GLUCOSAMINE
     Indication: Product used for unknown indication
     Dosage: 500 MG, Q12H
     Route: 065
  812. GLUCOSAMINE [Suspect]
     Active Substance: GLUCOSAMINE
     Dosage: 1000 MG, Q12H (500 MG, Q12H)
     Route: 065
  813. GLUCOSAMINE [Suspect]
     Active Substance: GLUCOSAMINE
     Dosage: 2500 MG, Q12H (500 MG, Q12)
     Route: 065
  814. GLUCOSAMINE [Suspect]
     Active Substance: GLUCOSAMINE
     Dosage: UNK, Q12H
     Route: 065
  815. GLUCOSAMINE [Suspect]
     Active Substance: GLUCOSAMINE
     Dosage: 500 MG, Q12H (500 MILLIGRAM 1 EVERY 5 DAYS)
     Route: 065
  816. GLUCOSAMINE [Suspect]
     Active Substance: GLUCOSAMINE
     Dosage: 500 MG, Q12H (500 MILLIGRAM 1 EVERY 5 DAYS)
     Route: 065
  817. GLUCOSAMINE [Suspect]
     Active Substance: GLUCOSAMINE
     Dosage: 500 MG, Q12H (500 MILLIGRAM 1 EVERY 5 DAYS)
     Route: 065
  818. GLUCOSAMINE [Suspect]
     Active Substance: GLUCOSAMINE
     Dosage: 1000 MG, Q12H (1000 MILLIGRAM 1 EVERY 5 DAYS )
     Route: 065
  819. GLUCOSAMINE [Suspect]
     Active Substance: GLUCOSAMINE
     Dosage: 500 MG, Q12H (500 MILLIGRAM 1 EVERY 5 DAYS )
     Route: 065
  820. GLUCOSAMINE [Suspect]
     Active Substance: GLUCOSAMINE
     Dosage: 500 MG, Q12H (500 MILLIGRAM 1 EVERY 5 DAYS )
     Route: 065
  821. GLUCOSAMINE [Suspect]
     Active Substance: GLUCOSAMINE
     Dosage: 250 MG, Q12H (250 MILLIGRAM 1 EVERY 5 DAYS)
     Route: 065
  822. GLUCOSAMINE [Suspect]
     Active Substance: GLUCOSAMINE
     Dosage: 250 MG, Q12H (250 MILLIGRAM 1 EVERY 5 DAYS)
     Route: 065
  823. GLUCOSAMINE [Suspect]
     Active Substance: GLUCOSAMINE
     Dosage: 250 MG, Q12H (250 MILLIGRAM 1 EVERY 5 DAYS)
     Route: 065
  824. GLYCERIN [Suspect]
     Active Substance: GLYCERIN
     Indication: Product used for unknown indication
     Route: 065
  825. AMLODIPINE\TELMISARTAN [Suspect]
     Active Substance: AMLODIPINE\TELMISARTAN
     Indication: Product used for unknown indication
     Route: 065
  826. ACETAMINOPHEN\CAFFEINE [Suspect]
     Active Substance: ACETAMINOPHEN\CAFFEINE
     Indication: Cerebrovascular accident
     Route: 048
  827. ACETAMINOPHEN\CAFFEINE [Suspect]
     Active Substance: ACETAMINOPHEN\CAFFEINE
     Indication: Hypertension
     Route: 065
  828. ACETAMINOPHEN\CAFFEINE [Suspect]
     Active Substance: ACETAMINOPHEN\CAFFEINE
     Indication: Angina pectoris
     Dosage: 18 MG, QD
     Route: 065
  829. ACETAMINOPHEN\CAFFEINE [Suspect]
     Active Substance: ACETAMINOPHEN\CAFFEINE
     Indication: Chest pain
     Dosage: 18 UG, QD
     Route: 065
  830. ACETAMINOPHEN\CAFFEINE [Suspect]
     Active Substance: ACETAMINOPHEN\CAFFEINE
     Indication: Coronary artery disease
     Dosage: 18 UG, QD
     Route: 065
  831. ACETAMINOPHEN\CAFFEINE [Suspect]
     Active Substance: ACETAMINOPHEN\CAFFEINE
     Indication: Pain
     Dosage: UNK, QD
     Route: 065
  832. ACETAMINOPHEN\CAFFEINE [Suspect]
     Active Substance: ACETAMINOPHEN\CAFFEINE
     Indication: Chronic obstructive pulmonary disease
     Dosage: 1 DOSAGE FORM, QD
     Route: 065
  833. ACETAMINOPHEN\CAFFEINE [Suspect]
     Active Substance: ACETAMINOPHEN\CAFFEINE
     Indication: Radioactive iodine therapy
     Route: 065
  834. ACETAMINOPHEN\CAFFEINE [Suspect]
     Active Substance: ACETAMINOPHEN\CAFFEINE
     Indication: Product used for unknown indication
     Route: 065
  835. ACETAMINOPHEN\CAFFEINE [Suspect]
     Active Substance: ACETAMINOPHEN\CAFFEINE
     Dosage: 18 UG, QD
     Route: 065
  836. ACETAMINOPHEN\CAFFEINE [Suspect]
     Active Substance: ACETAMINOPHEN\CAFFEINE
     Dosage: 2 DOSAGE FORM, Q24H (1 EVERY 24 DAYS)
     Route: 065
  837. SENNOSIDES A AND B [Suspect]
     Active Substance: SENNOSIDES A AND B
     Indication: Pain
     Route: 065
  838. SENNOSIDES A AND B [Suspect]
     Active Substance: SENNOSIDES A AND B
     Route: 065
  839. HERBALS\PLANTAGO OVATA LEAF [Suspect]
     Active Substance: HERBALS\PLANTAGO OVATA LEAF
     Indication: Constipation
     Route: 065
  840. TIOTROPIUM BROMIDE [Suspect]
     Active Substance: TIOTROPIUM BROMIDE
     Indication: Constipation
     Route: 065
  841. TIOTROPIUM BROMIDE [Suspect]
     Active Substance: TIOTROPIUM BROMIDE
     Indication: Chronic obstructive pulmonary disease
     Route: 048
  842. TIOTROPIUM BROMIDE [Suspect]
     Active Substance: TIOTROPIUM BROMIDE
     Route: 065
  843. TIOTROPIUM BROMIDE [Suspect]
     Active Substance: TIOTROPIUM BROMIDE
     Route: 065
  844. TIOTROPIUM BROMIDE [Suspect]
     Active Substance: TIOTROPIUM BROMIDE
     Dosage: 18 UG, QD 18 MCG, DAILY
     Route: 065
  845. TIOTROPIUM BROMIDE [Suspect]
     Active Substance: TIOTROPIUM BROMIDE
     Dosage: 18 MG, QD
     Route: 065
  846. TIOTROPIUM BROMIDE [Suspect]
     Active Substance: TIOTROPIUM BROMIDE
     Route: 065
  847. TIOTROPIUM BROMIDE [Suspect]
     Active Substance: TIOTROPIUM BROMIDE
     Dosage: 5 MG, QD
     Route: 065
  848. QUINAPRIL [Suspect]
     Active Substance: QUINAPRIL
     Indication: Product used for unknown indication
     Dosage: 20 MG, Q12H
     Route: 048
  849. QUINAPRIL [Suspect]
     Active Substance: QUINAPRIL
     Route: 048
  850. QUINAPRIL [Suspect]
     Active Substance: QUINAPRIL
     Route: 048
  851. QUINAPRIL [Suspect]
     Active Substance: QUINAPRIL
     Route: 065
  852. QUINAPRIL [Suspect]
     Active Substance: QUINAPRIL
     Dosage: 20 MG, QD
     Route: 048
  853. QUINAPRIL [Suspect]
     Active Substance: QUINAPRIL
     Route: 048
  854. QUINAPRIL [Suspect]
     Active Substance: QUINAPRIL
     Route: 065
  855. QUINAPRIL [Suspect]
     Active Substance: QUINAPRIL
     Dosage: 20 MG, QD
     Route: 048
  856. ACETAMINOPHEN\ASPIRIN\CAFFEINE [Suspect]
     Active Substance: ACETAMINOPHEN\ASPIRIN\CAFFEINE
     Indication: Product used for unknown indication
     Route: 065
  857. ACETAMINOPHEN\ASPIRIN\CAFFEINE [Suspect]
     Active Substance: ACETAMINOPHEN\ASPIRIN\CAFFEINE
     Dosage: 500 MG, Q8H
     Route: 065
  858. ACETAMINOPHEN\ASPIRIN\CAFFEINE [Suspect]
     Active Substance: ACETAMINOPHEN\ASPIRIN\CAFFEINE
     Dosage: 4500 MG, QD (1500 MG, TID  )
     Route: 065
  859. ACETAMINOPHEN\ASPIRIN\CAFFEINE [Suspect]
     Active Substance: ACETAMINOPHEN\ASPIRIN\CAFFEINE
     Dosage: 500 MG, Q8H
     Route: 065
  860. ACETAMINOPHEN\ASPIRIN\CAFFEINE [Suspect]
     Active Substance: ACETAMINOPHEN\ASPIRIN\CAFFEINE
     Dosage: 500 MG, QD
     Route: 065
  861. ASPIRIN [Suspect]
     Active Substance: ASPIRIN
     Indication: Coronary artery disease
     Route: 048
  862. ASPIRIN [Suspect]
     Active Substance: ASPIRIN
     Indication: Hypertension
     Dosage: 40 MG, QD (40 UNK,1 EVERY 1 DAY)
     Route: 065
  863. ASPIRIN [Suspect]
     Active Substance: ASPIRIN
     Indication: Angina pectoris
     Dosage: 15 MG, QD
     Route: 065
  864. ASPIRIN [Suspect]
     Active Substance: ASPIRIN
     Indication: Cerebrovascular accident
     Dosage: 40 MG, QD
     Route: 048
  865. ASPIRIN [Suspect]
     Active Substance: ASPIRIN
     Dosage: 15 MG, QD
     Route: 065
  866. ASPIRIN [Suspect]
     Active Substance: ASPIRIN
     Dosage: 15 MG, QD
     Route: 048
  867. ASPIRIN [Suspect]
     Active Substance: ASPIRIN
     Route: 065
  868. ASPIRIN [Suspect]
     Active Substance: ASPIRIN
     Dosage: 15 MG, QD
     Route: 065
  869. ASPIRIN [Suspect]
     Active Substance: ASPIRIN
     Dosage: 15 MG, QD
     Route: 048
  870. ASPIRIN [Suspect]
     Active Substance: ASPIRIN
     Dosage: 20 MG, QD
     Route: 048
  871. ASPIRIN [Suspect]
     Active Substance: ASPIRIN
     Route: 065
  872. AMITRIPTYLINE [Suspect]
     Active Substance: AMITRIPTYLINE
     Indication: Insomnia
     Dosage: 50 MG, QD
     Route: 065
  873. AMITRIPTYLINE [Suspect]
     Active Substance: AMITRIPTYLINE
     Indication: Angina pectoris
     Dosage: 75 MG, QD
     Route: 065
  874. AMITRIPTYLINE [Suspect]
     Active Substance: AMITRIPTYLINE
     Indication: Pain
     Route: 065
  875. AMITRIPTYLINE [Suspect]
     Active Substance: AMITRIPTYLINE
     Indication: Thyroid disorder
     Route: 065
  876. AMITRIPTYLINE [Suspect]
     Active Substance: AMITRIPTYLINE
     Indication: Radioactive iodine therapy
     Dosage: 75 MG, QD 1EVERY 1 DAY
     Route: 065
  877. AMITRIPTYLINE [Suspect]
     Active Substance: AMITRIPTYLINE
     Indication: Prophylaxis
     Dosage: 25 MG, QD DAILY
     Route: 065
  878. AMITRIPTYLINE [Suspect]
     Active Substance: AMITRIPTYLINE
     Indication: Oedema
     Dosage: 25 MG, QD DAILY
     Route: 048
  879. AMITRIPTYLINE [Suspect]
     Active Substance: AMITRIPTYLINE
     Indication: Fibromyalgia
     Route: 048
  880. AMITRIPTYLINE [Suspect]
     Active Substance: AMITRIPTYLINE
     Indication: Duodenal ulcer
     Dosage: 20 MG, Q12H
     Route: 048
  881. AMITRIPTYLINE [Suspect]
     Active Substance: AMITRIPTYLINE
     Indication: Dementia
     Dosage: 40 MG, QD (20 MG, BID)
     Route: 065
  882. AMITRIPTYLINE [Suspect]
     Active Substance: AMITRIPTYLINE
     Indication: Constipation
  883. AMITRIPTYLINE [Suspect]
     Active Substance: AMITRIPTYLINE
     Indication: Chest pain
  884. AMITRIPTYLINE [Suspect]
     Active Substance: AMITRIPTYLINE
     Indication: Hypertension
  885. AMITRIPTYLINE [Suspect]
     Active Substance: AMITRIPTYLINE
     Indication: Coronary artery disease
  886. AMITRIPTYLINE [Suspect]
     Active Substance: AMITRIPTYLINE
     Indication: Arthritis
  887. AMITRIPTYLINE [Suspect]
     Active Substance: AMITRIPTYLINE
     Indication: Product used for unknown indication
  888. ASPIRIN\DIPYRIDAMOLE [Suspect]
     Active Substance: ASPIRIN\DIPYRIDAMOLE
     Indication: Product used for unknown indication
     Dosage: 2 DOSAGE FORM, QD
     Route: 065
  889. ACETAMINOSALOL\ASPIRIN\CAFFEINE [Suspect]
     Active Substance: ACETAMINOSALOL\ASPIRIN\CAFFEINE
     Indication: Product used for unknown indication
     Route: 065
  890. ACETAMINOSALOL\ASPIRIN\CAFFEINE [Suspect]
     Active Substance: ACETAMINOSALOL\ASPIRIN\CAFFEINE
     Dosage: 10 MG, QD
     Route: 065
  891. ACETAMINOSALOL\ASPIRIN\CAFFEINE [Suspect]
     Active Substance: ACETAMINOSALOL\ASPIRIN\CAFFEINE
     Dosage: 100 MG, QD
     Route: 065
  892. DILTIAZEM [Suspect]
     Active Substance: DILTIAZEM
     Indication: Product used for unknown indication
     Dosage: 500 MG, QD
     Route: 065
  893. DILTIAZEM [Suspect]
     Active Substance: DILTIAZEM
     Dosage: 360 MG, QD
     Route: 065
  894. HERBALS [Suspect]
     Active Substance: HERBALS
     Indication: Product used for unknown indication
     Route: 048
  895. HERBALS [Suspect]
     Active Substance: HERBALS
     Dosage: 40 MG, QD
     Route: 048
  896. HERBALS [Suspect]
     Active Substance: HERBALS
     Dosage: 20 MG, Q12H
     Route: 048
  897. HERBALS [Suspect]
     Active Substance: HERBALS
     Route: 048
  898. HERBALS [Suspect]
     Active Substance: HERBALS
     Dosage: 10 MG, QD
     Route: 048
  899. HERBALS [Suspect]
     Active Substance: HERBALS
     Dosage: 400 MG, QD (200 MILLIGRAM, 2 EVERY 1 DAYS)
     Route: 065
  900. HERBALS [Suspect]
     Active Substance: HERBALS
     Dosage: 30 MG, QD
     Route: 065
  901. HERBALS [Suspect]
     Active Substance: HERBALS
     Route: 048
  902. HERBALS [Suspect]
     Active Substance: HERBALS
     Dosage: 20 MG, Q12H
     Route: 065
  903. HERBALS [Suspect]
     Active Substance: HERBALS
     Route: 065
  904. HERBALS [Suspect]
     Active Substance: HERBALS
     Route: 065
  905. HERBALS [Suspect]
     Active Substance: HERBALS
     Dosage: 200 MG, Q12H
     Route: 048
  906. HERBALS [Suspect]
     Active Substance: HERBALS
     Route: 065
  907. HERBALS [Suspect]
     Active Substance: HERBALS
     Route: 065
  908. HERBALS [Suspect]
     Active Substance: HERBALS
     Dosage: 20 MG, QD
     Route: 048
  909. HERBALS [Suspect]
     Active Substance: HERBALS
     Route: 048
  910. HERBALS [Suspect]
     Active Substance: HERBALS
     Dosage: 20 MG, Q12H
     Route: 048
  911. HERBALS [Suspect]
     Active Substance: HERBALS
     Dosage: 40 MG, QD (20 MG, BID)
     Route: 065
  912. HERBALS [Suspect]
     Active Substance: HERBALS
     Route: 065
  913. OXAZEPAM [Suspect]
     Active Substance: OXAZEPAM
     Indication: Insomnia
     Dosage: 75 MG, QD
     Route: 065
  914. OXAZEPAM [Suspect]
     Active Substance: OXAZEPAM
     Indication: Hypertension
     Dosage: 50 MG, QD
     Route: 065
  915. OXAZEPAM [Suspect]
     Active Substance: OXAZEPAM
     Indication: Angina pectoris
     Dosage: 40 MG, QD
     Route: 048
  916. OXAZEPAM [Suspect]
     Active Substance: OXAZEPAM
     Indication: Coronary artery disease
     Dosage: 20 MG, QD
     Route: 048
  917. OXAZEPAM [Suspect]
     Active Substance: OXAZEPAM
     Indication: Cerebrovascular accident
     Dosage: 15 MG, QD
     Route: 048
  918. OXAZEPAM [Suspect]
     Active Substance: OXAZEPAM
     Indication: Product used for unknown indication
     Dosage: 15 MG, QD
     Route: 048
  919. OXAZEPAM [Suspect]
     Active Substance: OXAZEPAM
     Dosage: 15 MG, QD
     Route: 048
  920. OXAZEPAM [Suspect]
     Active Substance: OXAZEPAM
     Dosage: 15 MG, QD
     Route: 048
  921. OXAZEPAM [Suspect]
     Active Substance: OXAZEPAM
     Dosage: 15 MG, QD
     Route: 048
  922. OXAZEPAM [Suspect]
     Active Substance: OXAZEPAM
     Dosage: 15 MG, QD
     Route: 048
  923. OXAZEPAM [Suspect]
     Active Substance: OXAZEPAM
     Dosage: 40 MG, QD
     Route: 048
  924. OXAZEPAM [Suspect]
     Active Substance: OXAZEPAM
     Route: 065
  925. AMITRIPTYLINE HYDROCHLORIDE\PERPHENAZINE [Suspect]
     Active Substance: AMITRIPTYLINE HYDROCHLORIDE\PERPHENAZINE
     Indication: Insomnia
     Route: 065
  926. AMITRIPTYLINE HYDROCHLORIDE\PERPHENAZINE [Suspect]
     Active Substance: AMITRIPTYLINE HYDROCHLORIDE\PERPHENAZINE
     Indication: Hypertension
     Route: 065
  927. AMITRIPTYLINE HYDROCHLORIDE\PERPHENAZINE [Suspect]
     Active Substance: AMITRIPTYLINE HYDROCHLORIDE\PERPHENAZINE
     Indication: Fibromyalgia
     Route: 065
  928. AMITRIPTYLINE HYDROCHLORIDE\PERPHENAZINE [Suspect]
     Active Substance: AMITRIPTYLINE HYDROCHLORIDE\PERPHENAZINE
     Indication: Duodenal ulcer
     Dosage: 50 MG, QD
     Route: 065
  929. AMITRIPTYLINE HYDROCHLORIDE\PERPHENAZINE [Suspect]
     Active Substance: AMITRIPTYLINE HYDROCHLORIDE\PERPHENAZINE
     Indication: Dementia
     Dosage: 60 MG, QD
     Route: 065
  930. AMITRIPTYLINE HYDROCHLORIDE\PERPHENAZINE [Suspect]
     Active Substance: AMITRIPTYLINE HYDROCHLORIDE\PERPHENAZINE
     Indication: Coronary artery disease
     Route: 065
  931. AMITRIPTYLINE HYDROCHLORIDE\PERPHENAZINE [Suspect]
     Active Substance: AMITRIPTYLINE HYDROCHLORIDE\PERPHENAZINE
     Indication: Constipation
     Route: 065
  932. AMITRIPTYLINE HYDROCHLORIDE\PERPHENAZINE [Suspect]
     Active Substance: AMITRIPTYLINE HYDROCHLORIDE\PERPHENAZINE
     Indication: Arthritis
     Route: 065
  933. AMINOPHYLLINE\BROMHEXINE\CHLORPHENIRAMINE [Suspect]
     Active Substance: AMINOPHYLLINE\BROMHEXINE\CHLORPHENIRAMINE
     Indication: Product used for unknown indication
     Route: 065
  934. PAPAVERINE [Suspect]
     Active Substance: PAPAVERINE
  935. PHENOBARBITAL [Suspect]
     Active Substance: PHENOBARBITAL

REACTIONS (24)
  - Fall [Recovered/Resolved]
  - Sedation complication [Recovered/Resolved]
  - Orthostatic hypotension [Recovered/Resolved]
  - Hypotension [Recovered/Resolved]
  - Sedation [Recovered/Resolved]
  - Pain [Recovered/Resolved]
  - Depressed level of consciousness [Recovered/Resolved]
  - Blood calcium decreased [Recovered/Resolved]
  - Dyspnoea [Recovered/Resolved]
  - Mobility decreased [Recovered/Resolved]
  - Creatinine renal clearance decreased [Recovered/Resolved]
  - Cognitive disorder [Recovered/Resolved]
  - Balance disorder [Recovered/Resolved]
  - Drug abuse [Recovered/Resolved]
  - Overdose [Recovered/Resolved]
  - Off label use [Recovered/Resolved]
  - Product use in unapproved indication [Recovered/Resolved]
  - Constipation [Recovered/Resolved]
  - Renal function test abnormal [Recovered/Resolved]
  - Toxicity to various agents [Recovered/Resolved]
  - Drug interaction [Recovered/Resolved]
  - Creatinine renal clearance increased [Recovered/Resolved]
  - Bladder disorder [Recovered/Resolved]
  - Dementia [Recovered/Resolved]
